FAERS Safety Report 20004801 (Version 18)
Quarter: 2022Q2

REPORT INFORMATION
  Report Type: Spontaneous
  Country: CA (occurrence: CA)
  Receive Date: 20211027
  Receipt Date: 20220616
  Transmission Date: 20220721
  Serious: Yes (Hospitalization, Other)
  Sender: FDA-Public Use
  Company Number: CA-SA-2019SA251433

PATIENT
  Age: 56 Year
  Sex: Male

DRUGS (853)
  1. FLOMAX [Suspect]
     Active Substance: TAMSULOSIN HYDROCHLORIDE
     Indication: Product used for unknown indication
     Dosage: 1 DF, QD
     Route: 048
  2. FLOMAX [Suspect]
     Active Substance: TAMSULOSIN HYDROCHLORIDE
     Indication: Product used for unknown indication
     Dosage: CONTROLLED, EXTENDED RELEASE
     Route: 048
  3. FLOMAX [Suspect]
     Active Substance: TAMSULOSIN HYDROCHLORIDE
     Dosage: 1 DF, PROLONGED-RELEASE TABLET
     Route: 048
  4. DILTIAZEM HYDROCHLORIDE [Suspect]
     Active Substance: DILTIAZEM HYDROCHLORIDE
     Indication: Product used for unknown indication
     Dosage: 1 DF, QD
     Route: 048
  5. DILTIAZEM HYDROCHLORIDE [Suspect]
     Active Substance: DILTIAZEM HYDROCHLORIDE
     Dosage: 1 DF, QD
     Route: 048
  6. DILTIAZEM HYDROCHLORIDE [Suspect]
     Active Substance: DILTIAZEM HYDROCHLORIDE
     Dosage: DAILY DOSE : 1) 1 DOSAGE FORMS (1 DOSAGE FORMS,1 IN 24 HR) 2) 1 DOSAGE FORMS (1 DOSAGE FORMS,1 IN 1
  7. DILTIAZEM HYDROCHLORIDE [Suspect]
     Active Substance: DILTIAZEM HYDROCHLORIDE
     Route: 048
  8. DILTIAZEM HYDROCHLORIDE [Suspect]
     Active Substance: DILTIAZEM HYDROCHLORIDE
     Route: 065
  9. RAMIPRIL [Suspect]
     Active Substance: RAMIPRIL
     Indication: Product used for unknown indication
     Dosage: 4 DF, QD
     Route: 048
  10. RAMIPRIL [Suspect]
     Active Substance: RAMIPRIL
     Dosage: 1 DF, QD
     Route: 065
  11. RAMIPRIL [Suspect]
     Active Substance: RAMIPRIL
     Dosage: UNK
  12. RAMIPRIL [Suspect]
     Active Substance: RAMIPRIL
     Route: 065
  13. AMLODIPINE BESYLATE [Suspect]
     Active Substance: AMLODIPINE BESYLATE
     Indication: Product used for unknown indication
     Dosage: 1.5 DF, QD
     Route: 065
  14. AMLODIPINE BESYLATE [Suspect]
     Active Substance: AMLODIPINE BESYLATE
     Dosage: 1.5 DF, QD
     Route: 065
  15. AMLODIPINE BESYLATE [Suspect]
     Active Substance: AMLODIPINE BESYLATE
     Dosage: UNK
  16. AMLODIPINE BESYLATE [Suspect]
     Active Substance: AMLODIPINE BESYLATE
  17. AMLODIPINE BESYLATE [Suspect]
     Active Substance: AMLODIPINE BESYLATE
  18. AMLODIPINE BESYLATE [Suspect]
     Active Substance: AMLODIPINE BESYLATE
     Route: 065
  19. AMLODIPINE BESYLATE [Suspect]
     Active Substance: AMLODIPINE BESYLATE
     Route: 065
  20. AMLODIPINE BESYLATE [Suspect]
     Active Substance: AMLODIPINE BESYLATE
     Route: 065
  21. AMLODIPINE BESYLATE [Suspect]
     Active Substance: AMLODIPINE BESYLATE
     Route: 065
  22. BISOPROLOL FUMARATE [Suspect]
     Active Substance: BISOPROLOL FUMARATE
     Indication: Product used for unknown indication
     Dosage: 1 DF, QD
     Route: 048
  23. BISOPROLOL FUMARATE [Suspect]
     Active Substance: BISOPROLOL FUMARATE
     Dosage: 1 DF, QD
     Route: 065
  24. BISOPROLOL FUMARATE [Suspect]
     Active Substance: BISOPROLOL FUMARATE
     Dosage: 1 DF
  25. BISOPROLOL FUMARATE [Suspect]
     Active Substance: BISOPROLOL FUMARATE
     Dosage: DAILY DOSE : 1) 1 DOSAGE FORMS (1 DOSAGE FORMS,1 IN 24 HR) ROUTE OF ADMIN : 1) UNKNOWN
  26. BISOPROLOL FUMARATE [Suspect]
     Active Substance: BISOPROLOL FUMARATE
     Route: 048
  27. BISOPROLOL FUMARATE [Suspect]
     Active Substance: BISOPROLOL FUMARATE
     Route: 065
  28. CICLOPIROX OLAMINE [Suspect]
     Active Substance: CICLOPIROX OLAMINE
     Indication: Product used for unknown indication
     Dosage: 1 DF
     Route: 048
  29. CICLOPIROX OLAMINE [Suspect]
     Active Substance: CICLOPIROX OLAMINE
     Dosage: 3 DF, QD
     Route: 048
  30. CICLOPIROX OLAMINE [Suspect]
     Active Substance: CICLOPIROX OLAMINE
     Dosage: UNK
  31. CICLOPIROX OLAMINE [Suspect]
     Active Substance: CICLOPIROX OLAMINE
  32. CICLOPIROX OLAMINE [Suspect]
     Active Substance: CICLOPIROX OLAMINE
     Dosage: DAILY DOSE : 1) (1 DOSAGE FORMS) ROUTE OF ADMIN : 1) UNKNOWN
  33. CICLOPIROX OLAMINE [Suspect]
     Active Substance: CICLOPIROX OLAMINE
     Route: 065
  34. CICLOPIROX OLAMINE [Suspect]
     Active Substance: CICLOPIROX OLAMINE
     Route: 048
  35. CICLOPIROX OLAMINE [Suspect]
     Active Substance: CICLOPIROX OLAMINE
     Route: 065
  36. CLONAZEPAM [Suspect]
     Active Substance: CLONAZEPAM
     Indication: Product used for unknown indication
     Dosage: 1 DF, TID
     Route: 048
  37. CLONAZEPAM [Suspect]
     Active Substance: CLONAZEPAM
     Dosage: 1 DF
  38. CLONAZEPAM [Suspect]
     Active Substance: CLONAZEPAM
     Dosage: 3 DF, TID
  39. CLONAZEPAM [Suspect]
     Active Substance: CLONAZEPAM
     Dosage: 3 DOSAGE FORMS (3 DOSAGE FORMS,1 IN 1 D)
     Route: 048
  40. CLONAZEPAM [Suspect]
     Active Substance: CLONAZEPAM
     Dosage: 3 DOSAGE FORMS (1 DOSAGE FORMS,1 IN 8 HR)
     Route: 048
  41. CLONAZEPAM [Suspect]
     Active Substance: CLONAZEPAM
     Dosage: 9 DOSAGE FORMS (3 DOSAGE FORMS,1 IN 8 HR)
     Route: 048
  42. CLONAZEPAM [Suspect]
     Active Substance: CLONAZEPAM
  43. CLONAZEPAM [Suspect]
     Active Substance: CLONAZEPAM
  44. CLONAZEPAM [Suspect]
     Active Substance: CLONAZEPAM
     Route: 048
  45. ESCITALOPRAM OXALATE [Suspect]
     Active Substance: ESCITALOPRAM OXALATE
     Indication: Product used for unknown indication
     Dosage: 1 DF, QD
     Route: 065
  46. ESCITALOPRAM OXALATE [Suspect]
     Active Substance: ESCITALOPRAM OXALATE
     Indication: Prinzmetal angina
     Dosage: UNK
     Route: 065
  47. ESCITALOPRAM OXALATE [Suspect]
     Active Substance: ESCITALOPRAM OXALATE
     Dosage: 1 DOSAGE FORMS (1 DOSAGE FORMS,1 IN 1 D)
  48. ESCITALOPRAM OXALATE [Suspect]
     Active Substance: ESCITALOPRAM OXALATE
     Dosage: 1 DF
  49. ESCITALOPRAM OXALATE [Suspect]
     Active Substance: ESCITALOPRAM OXALATE
     Dosage: UNK
  50. ESCITALOPRAM OXALATE [Suspect]
     Active Substance: ESCITALOPRAM OXALATE
     Dosage: 1 DF, QD
     Route: 065
  51. METOCLOPRAMIDE HYDROCHLORIDE [Suspect]
     Active Substance: METOCLOPRAMIDE HYDROCHLORIDE
     Indication: Migraine
     Dosage: 1 DF, Q8H
     Route: 048
  52. METOCLOPRAMIDE HYDROCHLORIDE [Suspect]
     Active Substance: METOCLOPRAMIDE HYDROCHLORIDE
     Dosage: 3 DF, Q8H
     Route: 048
  53. METOCLOPRAMIDE HYDROCHLORIDE [Suspect]
     Active Substance: METOCLOPRAMIDE HYDROCHLORIDE
     Dosage: 3 DF, TID
  54. METOCLOPRAMIDE HYDROCHLORIDE [Suspect]
     Active Substance: METOCLOPRAMIDE HYDROCHLORIDE
     Dosage: UNK UNK, TID
  55. METOCLOPRAMIDE HYDROCHLORIDE [Suspect]
     Active Substance: METOCLOPRAMIDE HYDROCHLORIDE
     Dosage: 1 DF, QD
  56. METOCLOPRAMIDE HYDROCHLORIDE [Suspect]
     Active Substance: METOCLOPRAMIDE HYDROCHLORIDE
     Dosage: 3 DF UNK
     Route: 065
  57. METOCLOPRAMIDE HYDROCHLORIDE [Suspect]
     Active Substance: METOCLOPRAMIDE HYDROCHLORIDE
     Dosage: UNK
  58. METOCLOPRAMIDE HYDROCHLORIDE [Suspect]
     Active Substance: METOCLOPRAMIDE HYDROCHLORIDE
     Dosage: 3 DF, QD
     Route: 065
  59. METOCLOPRAMIDE HYDROCHLORIDE [Suspect]
     Active Substance: METOCLOPRAMIDE HYDROCHLORIDE
     Dosage: 1 UNK
     Route: 065
  60. METOCLOPRAMIDE HYDROCHLORIDE [Suspect]
     Active Substance: METOCLOPRAMIDE HYDROCHLORIDE
     Dosage: 3 DF
     Route: 065
  61. METOCLOPRAMIDE HYDROCHLORIDE [Suspect]
     Active Substance: METOCLOPRAMIDE HYDROCHLORIDE
     Dosage: 1 DF
     Route: 065
  62. METOCLOPRAMIDE HYDROCHLORIDE [Suspect]
     Active Substance: METOCLOPRAMIDE HYDROCHLORIDE
     Route: 065
  63. METOCLOPRAMIDE HYDROCHLORIDE [Suspect]
     Active Substance: METOCLOPRAMIDE HYDROCHLORIDE
     Dosage: 3 DF
     Route: 065
  64. METOCLOPRAMIDE HYDROCHLORIDE [Suspect]
     Active Substance: METOCLOPRAMIDE HYDROCHLORIDE
     Dosage: 1 DF
     Route: 065
  65. METOCLOPRAMIDE HYDROCHLORIDE [Suspect]
     Active Substance: METOCLOPRAMIDE HYDROCHLORIDE
     Route: 065
  66. ACETAMINOPHEN\CODEINE PHOSPHATE [Suspect]
     Active Substance: ACETAMINOPHEN\CODEINE PHOSPHATE
     Indication: Product used for unknown indication
     Dosage: UNK, Q4D
  67. ACETAMINOPHEN\CODEINE PHOSPHATE [Suspect]
     Active Substance: ACETAMINOPHEN\CODEINE PHOSPHATE
     Dosage: UNK
     Route: 065
  68. ACETAMINOPHEN\CODEINE PHOSPHATE [Suspect]
     Active Substance: ACETAMINOPHEN\CODEINE PHOSPHATE
     Route: 065
  69. ACETAMINOPHEN\CODEINE PHOSPHATE [Suspect]
     Active Substance: ACETAMINOPHEN\CODEINE PHOSPHATE
     Route: 065
  70. ACETAMINOPHEN\CODEINE PHOSPHATE [Suspect]
     Active Substance: ACETAMINOPHEN\CODEINE PHOSPHATE
     Route: 048
  71. ACETAMINOPHEN\CODEINE PHOSPHATE [Suspect]
     Active Substance: ACETAMINOPHEN\CODEINE PHOSPHATE
     Route: 048
  72. ACETAMINOPHEN\CODEINE PHOSPHATE [Suspect]
     Active Substance: ACETAMINOPHEN\CODEINE PHOSPHATE
     Dosage: ELIXIR
     Route: 065
  73. ROSUVASTATIN [Suspect]
     Active Substance: ROSUVASTATIN
     Indication: Product used for unknown indication
     Dosage: 1 DF, QD
     Route: 048
  74. ROSUVASTATIN [Suspect]
     Active Substance: ROSUVASTATIN
     Dosage: 1 DF, QD
     Route: 065
  75. ROSUVASTATIN [Suspect]
     Active Substance: ROSUVASTATIN
     Dosage: 1 DF, QD
     Route: 048
  76. ROSUVASTATIN [Suspect]
     Active Substance: ROSUVASTATIN
     Dosage: NOT SPECIFIED (1 DOSAGE FORMS,1 IN 1 D)
     Route: 048
  77. ROSUVASTATIN [Suspect]
     Active Substance: ROSUVASTATIN
     Dosage: 1 DF UNK
     Route: 048
  78. ROSUVASTATIN [Suspect]
     Active Substance: ROSUVASTATIN
     Dosage: 1 UNK
     Route: 065
  79. MOMETASONE FUROATE [Suspect]
     Active Substance: MOMETASONE FUROATE
     Indication: Product used for unknown indication
     Dosage: 1 DF, QD (INTRA-NASAL, SPRAY METERED DOSE)
     Route: 055
  80. MOMETASONE FUROATE [Suspect]
     Active Substance: MOMETASONE FUROATE
     Dosage: 1 DF, QD
     Route: 055
  81. MOMETASONE FUROATE [Suspect]
     Active Substance: MOMETASONE FUROATE
     Dosage: 1 DF, QD
     Route: 065
  82. MOMETASONE FUROATE [Suspect]
     Active Substance: MOMETASONE FUROATE
     Dosage: INHALATION (1 DOSAGE FORMS,1 IN 1 D)
  83. MOMETASONE FUROATE [Suspect]
     Active Substance: MOMETASONE FUROATE
  84. MOMETASONE FUROATE [Suspect]
     Active Substance: MOMETASONE FUROATE
     Dosage: DAILY DOSE : 1) INTRA-NASAL, SPRAY METERED DOSE (1 DOSAGE FORMS,1 IN 24 HR) 2) 1 DOSAGE FORMS (1 DOS
  85. MOMETASONE FUROATE [Suspect]
     Active Substance: MOMETASONE FUROATE
     Dosage: NOT SPECIFIED
     Route: 065
  86. MOMETASONE FUROATE [Suspect]
     Active Substance: MOMETASONE FUROATE
     Dosage: NOT SPECIFIED
     Route: 055
  87. TRAZODONE HYDROCHLORIDE [Suspect]
     Active Substance: TRAZODONE HYDROCHLORIDE
     Indication: Product used for unknown indication
     Dosage: 1 DF, QD
     Route: 065
  88. TRAZODONE HYDROCHLORIDE [Suspect]
     Active Substance: TRAZODONE HYDROCHLORIDE
     Dosage: DAILY DOSE : 1) 1 DOSAGE FORMS (1 DOSAGE FORMS,1 IN 1 D) 2) 1 DOSAGE FORMS (1 DOSAGE FORMS,1 IN 1 D)
  89. TRAZODONE HYDROCHLORIDE [Suspect]
     Active Substance: TRAZODONE HYDROCHLORIDE
     Dosage: 1 DF
     Route: 065
  90. TRAZODONE HYDROCHLORIDE [Suspect]
     Active Substance: TRAZODONE HYDROCHLORIDE
     Dosage: 1 DF
     Route: 065
  91. TRAZODONE HYDROCHLORIDE [Suspect]
     Active Substance: TRAZODONE HYDROCHLORIDE
     Dosage: UNK
     Route: 065
  92. TRAZODONE HYDROCHLORIDE [Suspect]
     Active Substance: TRAZODONE HYDROCHLORIDE
     Dosage: 1 DF
     Route: 065
  93. TRAZODONE HYDROCHLORIDE [Suspect]
     Active Substance: TRAZODONE HYDROCHLORIDE
     Dosage: 1 DF
     Route: 065
  94. TRAZODONE HYDROCHLORIDE [Suspect]
     Active Substance: TRAZODONE HYDROCHLORIDE
     Route: 065
  95. ZOPICLONE [Suspect]
     Active Substance: ZOPICLONE
     Indication: Product used for unknown indication
     Dosage: 1 DF, QD
  96. ZOPICLONE [Suspect]
     Active Substance: ZOPICLONE
     Dosage: 1 DF
  97. ZOPICLONE [Suspect]
     Active Substance: ZOPICLONE
     Dosage: 1 DOSAGE FORMS (1 DOSAGE FORMS,1 IN 1 D)
  98. ZOPICLONE [Suspect]
     Active Substance: ZOPICLONE
  99. HYDROCORTISONE [Suspect]
     Active Substance: HYDROCORTISONE
     Indication: Product used for unknown indication
     Dosage: 1 DF, QD
     Route: 061
  100. HYDROCORTISONE [Suspect]
     Active Substance: HYDROCORTISONE
     Dosage: 1 IN 1 D
  101. HYDROCORTISONE [Suspect]
     Active Substance: HYDROCORTISONE
  102. HYDROCORTISONE [Suspect]
     Active Substance: HYDROCORTISONE
     Dosage: NOT SPECIFIED
     Route: 061
  103. LEVOTHYROXINE SODIUM [Suspect]
     Active Substance: LEVOTHYROXINE SODIUM
     Indication: Product used for unknown indication
     Dosage: 1 DF, QD
     Route: 065
  104. LEVOTHYROXINE SODIUM [Suspect]
     Active Substance: LEVOTHYROXINE SODIUM
  105. LEVOTHYROXINE SODIUM [Suspect]
     Active Substance: LEVOTHYROXINE SODIUM
     Dosage: NOT SPECIFIED (1 DOSAGE FORMS,1 IN 1 D)
  106. LEVOTHYROXINE SODIUM [Suspect]
     Active Substance: LEVOTHYROXINE SODIUM
  107. LEVOTHYROXINE SODIUM [Suspect]
     Active Substance: LEVOTHYROXINE SODIUM
     Dosage: DAILY DOSE : 1) NOT SPECIFIED (1 DOSAGE FORMS,1 IN 1 D) ROUTE OF ADMIN : 1) UNKNOWN
  108. LEVOTHYROXINE SODIUM [Suspect]
     Active Substance: LEVOTHYROXINE SODIUM
     Dosage: 1 DF
     Route: 065
  109. LEVOTHYROXINE SODIUM [Suspect]
     Active Substance: LEVOTHYROXINE SODIUM
     Route: 065
  110. LEVOTHYROXINE SODIUM [Suspect]
     Active Substance: LEVOTHYROXINE SODIUM
     Dosage: NOT SPECIFIED
     Route: 065
  111. LEVOTHYROXINE SODIUM [Suspect]
     Active Substance: LEVOTHYROXINE SODIUM
     Dosage: NOT SPECIFIED
     Route: 065
  112. LEVOTHYROXINE SODIUM [Suspect]
     Active Substance: LEVOTHYROXINE SODIUM
     Route: 065
  113. ASPIRIN [Suspect]
     Active Substance: ASPIRIN
     Indication: Product used for unknown indication
     Dosage: 1 DF, QD
  114. ASPIRIN [Suspect]
     Active Substance: ASPIRIN
     Dosage: NOT SPECIFIED (81 MG)
  115. ASPIRIN [Suspect]
     Active Substance: ASPIRIN
     Dosage: NOT SPECIFIED
  116. ASPIRIN [Suspect]
     Active Substance: ASPIRIN
     Dosage: NOT SPECIFIED (1 DOSAGE FORMS,1 IN 1 D)
  117. ASPIRIN [Suspect]
     Active Substance: ASPIRIN
     Dosage: DRUG : ACETYLSALICYLIC ACID(ACETYLSALICYLIC ACID)(TABLET) DAILY DOSE : 1) (81 MG) 3) NOT SPECIFIED (
  118. ASPIRIN [Suspect]
     Active Substance: ASPIRIN
     Dosage: 1 UNK
  119. ASPIRIN [Suspect]
     Active Substance: ASPIRIN
     Dosage: 81MG
  120. ASPIRIN [Suspect]
     Active Substance: ASPIRIN
     Dosage: 81 MG
     Route: 065
  121. ASPIRIN [Suspect]
     Active Substance: ASPIRIN
     Route: 065
  122. ASPIRIN [Suspect]
     Active Substance: ASPIRIN
     Dosage: NOT SPECIFIED
     Route: 065
  123. ASPIRIN [Suspect]
     Active Substance: ASPIRIN
     Route: 048
  124. ASPIRIN [Suspect]
     Active Substance: ASPIRIN
     Dosage: NOT SPECIFIED
     Route: 065
  125. ASPIRIN [Suspect]
     Active Substance: ASPIRIN
     Dosage: NOT SPECIFIED
     Route: 065
  126. TAMSULOSIN HYDROCHLORIDE [Suspect]
     Active Substance: TAMSULOSIN HYDROCHLORIDE
     Indication: Product used for unknown indication
     Dosage: 1 DF, QD
     Route: 065
  127. TAMSULOSIN HYDROCHLORIDE [Suspect]
     Active Substance: TAMSULOSIN HYDROCHLORIDE
     Indication: Product use issue
     Dosage: 1 DOSAGE FORMS (1 DOSAGE FORMS,1 IN 1 D)
  128. TAMSULOSIN HYDROCHLORIDE [Suspect]
     Active Substance: TAMSULOSIN HYDROCHLORIDE
     Indication: Product used for unknown indication
  129. TAMSULOSIN HYDROCHLORIDE [Suspect]
     Active Substance: TAMSULOSIN HYDROCHLORIDE
     Dosage: 1 DF, UNKNOWN FREQ.
     Route: 048
  130. AMLODIPINE [Suspect]
     Active Substance: AMLODIPINE BESYLATE
     Indication: Product used for unknown indication
     Dosage: 1.5 DF, QD
  131. AMLODIPINE [Suspect]
     Active Substance: AMLODIPINE BESYLATE
     Dosage: 1.5 DF
     Route: 065
  132. METOCLOPRAMIDE HYDROCHLORIDE [Suspect]
     Active Substance: METOCLOPRAMIDE HYDROCHLORIDE
     Indication: Migraine
     Dosage: 1 DF, TID
  133. METOCLOPRAMIDE HYDROCHLORIDE [Suspect]
     Active Substance: METOCLOPRAMIDE HYDROCHLORIDE
     Dosage: DAILY DOSE : 1) 3 DOSAGE FORMS (1 DOSAGE FORMS,1 IN 8 HR) 2) 3 DOSAGE FORMS (1 DOSAGE FORMS,1 IN 8 H
  134. LEVOTHYROXINE SODIUM [Suspect]
     Active Substance: LEVOTHYROXINE SODIUM
     Indication: Product used for unknown indication
     Dosage: 1 DF, QD
  135. LEVOTHYROXINE SODIUM [Suspect]
     Active Substance: LEVOTHYROXINE SODIUM
     Dosage: DAILY DOSE : 2) NOT SPECIFIED (1 DOSAGE FORMS,1 IN 1 D) ROUTE OF ADMIN : 1) UNKNOWN 2) UNKNOWN
  136. NITROGLYCERIN [Suspect]
     Active Substance: NITROGLYCERIN
     Indication: Prinzmetal angina
     Dosage: 1 DF, QD
     Route: 065
  137. NITROGLYCERIN [Suspect]
     Active Substance: NITROGLYCERIN
     Dosage: 1 DF, TID
     Route: 065
  138. NITROGLYCERIN [Suspect]
     Active Substance: NITROGLYCERIN
     Dosage: 1 DF, Q4D
     Route: 048
  139. NITROGLYCERIN [Suspect]
     Active Substance: NITROGLYCERIN
     Dosage: 1 DF, QD
     Route: 048
  140. NITROGLYCERIN [Suspect]
     Active Substance: NITROGLYCERIN
     Dosage: 1 DF, QD
     Route: 065
  141. NITROGLYCERIN [Suspect]
     Active Substance: NITROGLYCERIN
     Dosage: UNK
  142. NITROGLYCERIN [Suspect]
     Active Substance: NITROGLYCERIN
     Route: 065
  143. NITROGLYCERIN [Suspect]
     Active Substance: NITROGLYCERIN
     Route: 065
  144. NITROGLYCERIN [Suspect]
     Active Substance: NITROGLYCERIN
     Route: 065
  145. NITROGLYCERIN [Suspect]
     Active Substance: NITROGLYCERIN
     Route: 065
  146. NITROGLYCERIN [Suspect]
     Active Substance: NITROGLYCERIN
     Route: 048
  147. NITROGLYCERIN [Suspect]
     Active Substance: NITROGLYCERIN
     Route: 048
  148. ROSUVASTATIN CALCIUM [Suspect]
     Active Substance: ROSUVASTATIN CALCIUM
     Indication: Product used for unknown indication
     Dosage: 1 DF, QD
     Route: 048
  149. ROSUVASTATIN CALCIUM [Suspect]
     Active Substance: ROSUVASTATIN CALCIUM
  150. ROSUVASTATIN CALCIUM [Suspect]
     Active Substance: ROSUVASTATIN CALCIUM
     Dosage: DAILY DOSE : 1) 1 DOSAGE FORMS (1 DOSAGE FORMS,1 IN 1 D) 2) 1 DOSAGE FORMS (1 DOSAGE FORMS,1 IN 1 D)
  151. ROSUVASTATIN CALCIUM [Suspect]
     Active Substance: ROSUVASTATIN CALCIUM
     Dosage: 1 DF
     Route: 048
  152. ROSUVASTATIN CALCIUM [Suspect]
     Active Substance: ROSUVASTATIN CALCIUM
     Dosage: 1 DF
     Route: 065
  153. ROSUVASTATIN CALCIUM [Suspect]
     Active Substance: ROSUVASTATIN CALCIUM
     Dosage: 1 DF
     Route: 065
  154. ROSUVASTATIN CALCIUM [Suspect]
     Active Substance: ROSUVASTATIN CALCIUM
     Dosage: 1 DF
     Route: 048
  155. ALPRAZOLAM [Suspect]
     Active Substance: ALPRAZOLAM
     Indication: Product used for unknown indication
     Dosage: UNK
  156. ALPRAZOLAM [Suspect]
     Active Substance: ALPRAZOLAM
     Dosage: UNK
  157. ALPRAZOLAM [Suspect]
     Active Substance: ALPRAZOLAM
     Route: 065
  158. LEVOTHYROXINE SODIUM [Suspect]
     Active Substance: LEVOTHYROXINE SODIUM
     Indication: Product used for unknown indication
     Dosage: UNK
  159. TESTOSTERONE [Suspect]
     Active Substance: TESTOSTERONE
     Indication: Product used for unknown indication
     Dosage: 0.5 ML
     Route: 030
  160. TESTOSTERONE [Suspect]
     Active Substance: TESTOSTERONE
     Dosage: 5 UNK
  161. TESTOSTERONE [Suspect]
     Active Substance: TESTOSTERONE
     Dosage: NOT SPECIFIED
     Route: 065
  162. AMLODIPINE [Suspect]
     Active Substance: AMLODIPINE BESYLATE
     Dosage: UNK
  163. NITROGLYCERIN [Suspect]
     Active Substance: NITROGLYCERIN
     Dosage: DAILY DOSE : 1) EXTENDED RELEASE PATCH (1 DOSAGE FORMS,1 IN 1 D) ROUTE OF ADMIN : 1) UNKNOWN
  164. NITROGLYCERIN [Suspect]
     Active Substance: NITROGLYCERIN
     Indication: Prinzmetal angina
  165. NITROGLYCERIN [Suspect]
     Active Substance: NITROGLYCERIN
     Route: 048
  166. NITROGLYCERIN [Suspect]
     Active Substance: NITROGLYCERIN
     Dosage: 1 DF
     Route: 048
  167. ACETAMINOPHEN [Suspect]
     Active Substance: ACETAMINOPHEN
     Dosage: UNK
  168. HYDROCORTISONE [Suspect]
     Active Substance: HYDROCORTISONE
     Indication: Product used for unknown indication
     Dosage: 1 DF
     Route: 061
  169. TRAZODONE HYDROCHLORIDE [Suspect]
     Active Substance: TRAZODONE HYDROCHLORIDE
     Indication: Product used for unknown indication
     Dosage: DAILY DOSE : 1) 1 DOSAGE FORMS (1 DOSAGE FORMS,1 IN 1 D) ROUTE OF ADMIN : 1) UNKNOWN
  170. TRAZODONE HYDROCHLORIDE [Suspect]
     Active Substance: TRAZODONE HYDROCHLORIDE
     Dosage: 1 DF
     Route: 065
  171. BISOPROLOL [Suspect]
     Active Substance: BISOPROLOL
     Dosage: UNK
  172. HYDROCORTISONE BUTYRATE [Suspect]
     Active Substance: HYDROCORTISONE BUTYRATE
     Indication: Product used for unknown indication
     Dosage: UNK
  173. HYDROCORTISONE BUTYRATE [Suspect]
     Active Substance: HYDROCORTISONE BUTYRATE
     Dosage: UNK
     Route: 061
  174. HYDROCORTISONE BUTYRATE [Suspect]
     Active Substance: HYDROCORTISONE BUTYRATE
     Dosage: UNK
     Route: 065
  175. HYDROCORTISONE BUTYRATE [Suspect]
     Active Substance: HYDROCORTISONE BUTYRATE
     Dosage: 1 DF
     Route: 061
  176. RAMIPRIL [Suspect]
     Active Substance: RAMIPRIL
     Indication: Product use issue
     Dosage: DAILY DOSE : 1) 4 DOSAGE FORMS (1 DOSAGE FORMS,1 IN 6 HR) 2) NOT SPECIFIED (1 DOSAGE FORMS,1 IN 6 HR
  177. RAMIPRIL [Suspect]
     Active Substance: RAMIPRIL
     Indication: Product used for unknown indication
     Dosage: 1 DF, QID
     Route: 065
  178. RAMIPRIL [Suspect]
     Active Substance: RAMIPRIL
     Dosage: 1 DF
     Route: 065
  179. RAMIPRIL [Suspect]
     Active Substance: RAMIPRIL
     Dosage: 4 DF, QD
     Route: 065
  180. RAMIPRIL [Suspect]
     Active Substance: RAMIPRIL
     Dosage: 4 DF
     Route: 048
  181. RAMIPRIL [Suspect]
     Active Substance: RAMIPRIL
     Dosage: 1 DF
     Route: 065
  182. RAMIPRIL [Suspect]
     Active Substance: RAMIPRIL
     Dosage: UNK
     Route: 065
  183. RAMIPRIL [Suspect]
     Active Substance: RAMIPRIL
     Route: 048
  184. RAMIPRIL [Suspect]
     Active Substance: RAMIPRIL
     Dosage: 4 DF
     Route: 065
  185. RAMIPRIL [Suspect]
     Active Substance: RAMIPRIL
     Dosage: 1 DF
     Route: 048
  186. DILTIAZEM HYDROCHLORIDE [Suspect]
     Active Substance: DILTIAZEM HYDROCHLORIDE
     Indication: Product used for unknown indication
     Dosage: 1 DF
  187. NITROGLYCERIN [Suspect]
     Active Substance: NITROGLYCERIN
     Indication: Prinzmetal angina
     Dosage: 1 DF, QD
     Route: 048
  188. NITROGLYCERIN [Suspect]
     Active Substance: NITROGLYCERIN
  189. NITROGLYCERIN [Suspect]
     Active Substance: NITROGLYCERIN
     Route: 048
  190. NITROGLYCERIN [Suspect]
     Active Substance: NITROGLYCERIN
     Route: 048
  191. NITROGLYCERIN [Suspect]
     Active Substance: NITROGLYCERIN
     Route: 048
  192. NITROGLYCERIN [Suspect]
     Active Substance: NITROGLYCERIN
     Dosage: 1 DF, TID
     Route: 048
  193. NITROGLYCERIN [Suspect]
     Active Substance: NITROGLYCERIN
     Dosage: 1 DF
     Route: 048
  194. NITROGLYCERIN [Suspect]
     Active Substance: NITROGLYCERIN
     Dosage: 1 DF
     Route: 065
  195. NITROGLYCERIN [Suspect]
     Active Substance: NITROGLYCERIN
     Dosage: METERED-DOSE (AEROSOL)
     Route: 048
  196. AMLODIPINE BESYLATE [Suspect]
     Active Substance: AMLODIPINE BESYLATE
     Indication: Product used for unknown indication
     Dosage: 1 DF, Q8H
     Route: 065
  197. AMLODIPINE BESYLATE [Suspect]
     Active Substance: AMLODIPINE BESYLATE
     Dosage: 1 DF, QD
     Route: 065
  198. AMLODIPINE BESYLATE [Suspect]
     Active Substance: AMLODIPINE BESYLATE
     Route: 065
  199. AMLODIPINE BESYLATE [Suspect]
     Active Substance: AMLODIPINE BESYLATE
     Route: 065
  200. AMLODIPINE BESYLATE [Suspect]
     Active Substance: AMLODIPINE BESYLATE
     Route: 065
  201. AMLODIPINE BESYLATE [Suspect]
     Active Substance: AMLODIPINE BESYLATE
     Route: 065
  202. AMLODIPINE BESYLATE [Suspect]
     Active Substance: AMLODIPINE BESYLATE
     Route: 065
  203. AMLODIPINE BESYLATE [Suspect]
     Active Substance: AMLODIPINE BESYLATE
     Route: 065
  204. AMLODIPINE BESYLATE [Suspect]
     Active Substance: AMLODIPINE BESYLATE
     Dosage: 1.5 UNK
     Route: 065
  205. AMLODIPINE BESYLATE [Suspect]
     Active Substance: AMLODIPINE BESYLATE
     Dosage: 1 UNK
     Route: 065
  206. HYDROCORTISONE BUTYRATE [Suspect]
     Active Substance: HYDROCORTISONE BUTYRATE
     Indication: Product used for unknown indication
     Dosage: 1 DF, QD
     Route: 065
  207. HYDROCORTISONE BUTYRATE [Suspect]
     Active Substance: HYDROCORTISONE BUTYRATE
     Dosage: 1 DF
     Route: 065
  208. HYDROCORTISONE BUTYRATE [Suspect]
     Active Substance: HYDROCORTISONE BUTYRATE
     Dosage: 1 DF, QD
     Route: 061
  209. HYDROCORTISONE BUTYRATE [Suspect]
     Active Substance: HYDROCORTISONE BUTYRATE
     Dosage: 1 DF
     Route: 061
  210. ASPIRIN [Suspect]
     Active Substance: ASPIRIN
     Indication: Product used for unknown indication
     Dosage: 1 DF, QD
     Route: 065
  211. ASPIRIN [Suspect]
     Active Substance: ASPIRIN
     Dosage: 1 DF, QD
     Route: 065
  212. ASPIRIN [Suspect]
     Active Substance: ASPIRIN
     Dosage: 1 DF, QD
     Route: 065
  213. ASPIRIN [Suspect]
     Active Substance: ASPIRIN
     Dosage: 81 MG, UNKNOWN FREQ.
     Route: 065
  214. ASPIRIN [Suspect]
     Active Substance: ASPIRIN
     Dosage: UNK UNK, UNKNOWN FREQ.
     Route: 065
  215. ASPIRIN [Suspect]
     Active Substance: ASPIRIN
     Dosage: UNK
     Route: 065
  216. ASPIRIN [Suspect]
     Active Substance: ASPIRIN
     Dosage: 1 DF
     Route: 065
  217. ASPIRIN [Suspect]
     Active Substance: ASPIRIN
     Dosage: UNK
     Route: 048
  218. ASPIRIN [Suspect]
     Active Substance: ASPIRIN
     Dosage: 1 DF
     Route: 065
  219. BISOPROLOL FUMARATE [Suspect]
     Active Substance: BISOPROLOL FUMARATE
     Indication: Product used for unknown indication
     Dosage: 1 DF, QD
  220. BISOPROLOL FUMARATE [Suspect]
     Active Substance: BISOPROLOL FUMARATE
     Dosage: 1 DF, QD
     Route: 065
  221. BISOPROLOL FUMARATE [Suspect]
     Active Substance: BISOPROLOL FUMARATE
     Dosage: 1 DF, QD
     Route: 065
  222. BISOPROLOL FUMARATE [Suspect]
     Active Substance: BISOPROLOL FUMARATE
     Dosage: 1 DF UNK
     Route: 065
  223. BISOPROLOL [Suspect]
     Active Substance: BISOPROLOL
     Indication: Product used for unknown indication
     Dosage: 1 DF, QD
     Route: 065
  224. BISOPROLOL [Suspect]
     Active Substance: BISOPROLOL
     Dosage: 1 DF, QD
     Route: 065
  225. BISOPROLOL [Suspect]
     Active Substance: BISOPROLOL
     Dosage: 1 DF, QD
     Route: 065
  226. BISOPROLOL [Suspect]
     Active Substance: BISOPROLOL
     Dosage: 1 UNK
     Route: 048
  227. BISOPROLOL [Suspect]
     Active Substance: BISOPROLOL
     Dosage: 1 UNK
     Route: 065
  228. BISOPROLOL [Suspect]
     Active Substance: BISOPROLOL
     Dosage: 1 DF
     Route: 065
  229. BISOPROLOL [Suspect]
     Active Substance: BISOPROLOL
     Dosage: 1 DF
     Route: 048
  230. LEVOTHYROXINE SODIUM [Suspect]
     Active Substance: LEVOTHYROXINE SODIUM
     Indication: Product used for unknown indication
     Dosage: 1 DF, QD
  231. LEVOTHYROXINE SODIUM [Suspect]
     Active Substance: LEVOTHYROXINE SODIUM
     Indication: Product used for unknown indication
     Route: 065
  232. LEVOTHYROXINE SODIUM [Suspect]
     Active Substance: LEVOTHYROXINE SODIUM
     Dosage: 1 DF, QD
     Route: 065
  233. LEVOTHYROXINE SODIUM [Suspect]
     Active Substance: LEVOTHYROXINE SODIUM
     Dosage: 1 DF
     Route: 065
  234. ESCITALOPRAM OXALATE [Suspect]
     Active Substance: ESCITALOPRAM OXALATE
     Indication: Prinzmetal angina
     Dosage: UNK
     Route: 065
  235. ESCITALOPRAM OXALATE [Suspect]
     Active Substance: ESCITALOPRAM OXALATE
     Indication: Product used for unknown indication
     Dosage: 1 DF, QD
     Route: 065
  236. ESCITALOPRAM OXALATE [Suspect]
     Active Substance: ESCITALOPRAM OXALATE
     Dosage: 1 DF, QD
     Route: 065
  237. ESCITALOPRAM OXALATE [Suspect]
     Active Substance: ESCITALOPRAM OXALATE
     Dosage: 1 DF
     Route: 065
  238. ESCITALOPRAM OXALATE [Suspect]
     Active Substance: ESCITALOPRAM OXALATE
     Dosage: 1 DF
     Route: 065
  239. ESCITALOPRAM OXALATE [Suspect]
     Active Substance: ESCITALOPRAM OXALATE
     Dosage: 1 DF
     Route: 065
  240. NITROGLYCERIN [Suspect]
     Active Substance: NITROGLYCERIN
     Indication: Prinzmetal angina
     Dosage: 1 DF, QD
  241. NITROGLYCERIN [Suspect]
     Active Substance: NITROGLYCERIN
     Indication: Product used for unknown indication
     Route: 048
  242. NITROGLYCERIN [Suspect]
     Active Substance: NITROGLYCERIN
     Dosage: 1 DF
     Route: 048
  243. NITROGLYCERIN [Suspect]
     Active Substance: NITROGLYCERIN
     Dosage: 1 DF UNK
     Route: 048
  244. NITROGLYCERIN [Suspect]
     Active Substance: NITROGLYCERIN
     Dosage: UNK
     Route: 048
  245. NITROGLYCERIN [Suspect]
     Active Substance: NITROGLYCERIN
     Dosage: 1 DF
     Route: 048
  246. NITROGLYCERIN [Suspect]
     Active Substance: NITROGLYCERIN
     Dosage: EXTENDED RELEASE PATCH
     Route: 065
  247. METOCLOPRAMIDE HYDROCHLORIDE [Suspect]
     Active Substance: METOCLOPRAMIDE HYDROCHLORIDE
     Indication: Migraine
     Dosage: 1 DF
     Route: 065
  248. METOCLOPRAMIDE HYDROCHLORIDE [Suspect]
     Active Substance: METOCLOPRAMIDE HYDROCHLORIDE
     Dosage: 1 DF
     Route: 048
  249. METOCLOPRAMIDE HYDROCHLORIDE [Suspect]
     Active Substance: METOCLOPRAMIDE HYDROCHLORIDE
     Dosage: 3 DF
     Route: 065
  250. METOCLOPRAMIDE HYDROCHLORIDE [Suspect]
     Active Substance: METOCLOPRAMIDE HYDROCHLORIDE
     Dosage: 1 DF
     Route: 065
  251. NITROGLYCERIN [Suspect]
     Active Substance: NITROGLYCERIN
     Indication: Prinzmetal angina
     Dosage: 1 DF
     Route: 065
  252. NITROGLYCERIN [Suspect]
     Active Substance: NITROGLYCERIN
     Dosage: UNK
     Route: 048
  253. NITROGLYCERIN [Suspect]
     Active Substance: NITROGLYCERIN
     Dosage: UNK
     Route: 048
  254. NITROGLYCERIN [Suspect]
     Active Substance: NITROGLYCERIN
     Dosage: UNK
     Route: 048
  255. MOMETASONE FUROATE [Suspect]
     Active Substance: MOMETASONE FUROATE
     Indication: Product used for unknown indication
     Dosage: 1 DF, ONCE DAILY(RESPIRATORY(INHALATION))
     Route: 055
  256. MOMETASONE FUROATE [Suspect]
     Active Substance: MOMETASONE FUROATE
     Dosage: 1 DF, ONCE DAILY(RESPIRATORY(INHALATION))
     Route: 055
  257. MOMETASONE FUROATE [Suspect]
     Active Substance: MOMETASONE FUROATE
     Dosage: 1 UNK
     Route: 065
  258. MOMETASONE FUROATE [Suspect]
     Active Substance: MOMETASONE FUROATE
     Dosage: UNK
     Route: 055
  259. NITROGLYCERIN [Suspect]
     Active Substance: NITROGLYCERIN
     Indication: Product used for unknown indication
     Dosage: 1 UNK
     Route: 065
  260. TAMSULOSIN HYDROCHLORIDE [Suspect]
     Active Substance: TAMSULOSIN HYDROCHLORIDE
     Indication: Product used for unknown indication
     Dosage: 1 DF, QD
     Route: 065
  261. TAMSULOSIN HYDROCHLORIDE [Suspect]
     Active Substance: TAMSULOSIN HYDROCHLORIDE
     Indication: Product used for unknown indication
     Dosage: UNK
  262. TAMSULOSIN HYDROCHLORIDE [Suspect]
     Active Substance: TAMSULOSIN HYDROCHLORIDE
     Dosage: 1 DF
  263. TAMSULOSIN HYDROCHLORIDE [Suspect]
     Active Substance: TAMSULOSIN HYDROCHLORIDE
     Dosage: 1 DF, QD
     Route: 065
  264. TAMSULOSIN HYDROCHLORIDE [Suspect]
     Active Substance: TAMSULOSIN HYDROCHLORIDE
     Dosage: 1 DF, UNKNOWN FREQ.
     Route: 065
  265. ALPRAZOLAM [Suspect]
     Active Substance: ALPRAZOLAM
     Indication: Product used for unknown indication
     Dosage: UNK
     Route: 065
  266. AMLODIPINE [Suspect]
     Active Substance: AMLODIPINE BESYLATE
     Indication: Product used for unknown indication
     Dosage: 1.5 DF
     Route: 065
  267. AMLODIPINE BESYLATE [Suspect]
     Active Substance: AMLODIPINE BESYLATE
     Indication: Product used for unknown indication
     Dosage: 1 DF
  268. AMLODIPINE BESYLATE [Suspect]
     Active Substance: AMLODIPINE BESYLATE
     Dosage: 1.5 DF
     Route: 065
  269. TAMSULOSIN HYDROCHLORIDE [Suspect]
     Active Substance: TAMSULOSIN HYDROCHLORIDE
     Indication: Product used for unknown indication
     Dosage: NOT SPECIFIED
     Route: 065
  270. TAMSULOSIN HYDROCHLORIDE [Suspect]
     Active Substance: TAMSULOSIN HYDROCHLORIDE
     Route: 048
  271. TAMSULOSIN HYDROCHLORIDE [Suspect]
     Active Substance: TAMSULOSIN HYDROCHLORIDE
     Dosage: NOT SPECIFIED
     Route: 065
  272. TAMSULOSIN HYDROCHLORIDE [Suspect]
     Active Substance: TAMSULOSIN HYDROCHLORIDE
     Dosage: 1 DF
     Route: 048
  273. CICLOPIROX [Suspect]
     Active Substance: CICLOPIROX
     Indication: Product used for unknown indication
     Dosage: 1 DF
     Route: 065
  274. CICLOPIROX [Suspect]
     Active Substance: CICLOPIROX
     Dosage: UNK
     Route: 065
  275. CODEINE PHOSPHATE [Suspect]
     Active Substance: CODEINE PHOSPHATE
     Indication: Product used for unknown indication
     Dosage: UNK
     Route: 065
  276. NITROGLYCERIN [Suspect]
     Active Substance: NITROGLYCERIN
     Indication: Product used for unknown indication
     Dosage: 1 DF
     Route: 065
  277. BRILINTA [Suspect]
     Active Substance: TICAGRELOR
     Indication: Product used for unknown indication
     Dosage: 1 DF, BID
     Route: 048
  278. BRILINTA [Suspect]
     Active Substance: TICAGRELOR
     Indication: Product used for unknown indication
     Route: 048
  279. BRILINTA [Suspect]
     Active Substance: TICAGRELOR
     Dosage: 1 DF
     Route: 065
  280. BRILINTA [Suspect]
     Active Substance: TICAGRELOR
     Dosage: 2 DF
     Route: 048
  281. BRILINTA [Suspect]
     Active Substance: TICAGRELOR
     Dosage: 2 DF
     Route: 065
  282. BRILINTA [Suspect]
     Active Substance: TICAGRELOR
     Dosage: 2 DF
     Route: 065
  283. BRILINTA [Suspect]
     Active Substance: TICAGRELOR
     Dosage: 1 DF
     Route: 048
  284. BRILINTA [Suspect]
     Active Substance: TICAGRELOR
     Dosage: 1 DF
     Route: 065
  285. BRILINTA [Suspect]
     Active Substance: TICAGRELOR
     Dosage: 1 DF
     Route: 048
  286. ACETAMINOPHEN\CODEINE PHOSPHATE [Suspect]
     Active Substance: ACETAMINOPHEN\CODEINE PHOSPHATE
     Indication: Product used for unknown indication
     Dosage: UNK, Q6H
  287. DELATESTRYL [Suspect]
     Active Substance: TESTOSTERONE ENANTHATE
     Indication: Product used for unknown indication
     Dosage: 0.5 ML, QOW
     Route: 030
  288. DELATESTRYL [Suspect]
     Active Substance: TESTOSTERONE ENANTHATE
     Dosage: 0.5 ML, QD
     Route: 030
  289. DELATESTRYL [Suspect]
     Active Substance: TESTOSTERONE ENANTHATE
     Dosage: 0.5 ML, EVERY 2 WEEKS
     Route: 030
  290. DELATESTRYL [Suspect]
     Active Substance: TESTOSTERONE ENANTHATE
     Dosage: 5 ML, 2 WEEKS
     Route: 030
  291. DELATESTRYL [Suspect]
     Active Substance: TESTOSTERONE ENANTHATE
     Dosage: DAILY DOSE : 1) SOLUTION INTRAMUSCULAR (FILL SIZE: 5 ML) (0.5 ML,1 IN 2 WK) 2) (1 DOSAGE FORMS,1 IN
  292. DELATESTRYL [Suspect]
     Active Substance: TESTOSTERONE ENANTHATE
     Dosage: 0.5 ML UNK
     Route: 030
  293. DELATESTRYL [Suspect]
     Active Substance: TESTOSTERONE ENANTHATE
     Dosage: 1 DF
     Route: 030
  294. DELATESTRYL [Suspect]
     Active Substance: TESTOSTERONE ENANTHATE
     Dosage: 1 DF, BID
     Route: 030
  295. DELATESTRYL [Suspect]
     Active Substance: TESTOSTERONE ENANTHATE
     Dosage: 5 ML, QW
     Route: 030
  296. DELATESTRYL [Suspect]
     Active Substance: TESTOSTERONE ENANTHATE
     Dosage: 1 DF
     Route: 030
  297. DELATESTRYL [Suspect]
     Active Substance: TESTOSTERONE ENANTHATE
     Dosage: 1 DF
     Route: 030
  298. DELATESTRYL [Suspect]
     Active Substance: TESTOSTERONE ENANTHATE
     Dosage: 0.5 ML
     Route: 030
  299. DELATESTRYL [Suspect]
     Active Substance: TESTOSTERONE ENANTHATE
     Dosage: 5 UNK
  300. DELATESTRYL [Suspect]
     Active Substance: TESTOSTERONE ENANTHATE
     Dosage: UNK
     Route: 030
  301. DELATESTRYL [Suspect]
     Active Substance: TESTOSTERONE ENANTHATE
     Dosage: 0.5 ML
     Route: 065
  302. DELATESTRYL [Suspect]
     Active Substance: TESTOSTERONE ENANTHATE
     Dosage: 0.5 UNK
     Route: 065
  303. DELATESTRYL [Suspect]
     Active Substance: TESTOSTERONE ENANTHATE
     Dosage: 1 ML
  304. DELATESTRYL [Suspect]
     Active Substance: TESTOSTERONE ENANTHATE
     Dosage: 1 DF (FORMULATION: SOLUTION)
     Route: 030
  305. DELATESTRYL [Suspect]
     Active Substance: TESTOSTERONE ENANTHATE
     Dosage: 1 DF (FORMULATION: SOLUTION)
     Route: 030
  306. DELATESTRYL [Suspect]
     Active Substance: TESTOSTERONE ENANTHATE
     Dosage: 1 ML (FORMULATION: SOLUTION)
     Route: 030
  307. DELATESTRYL [Suspect]
     Active Substance: TESTOSTERONE ENANTHATE
     Dosage: 5 ML (FORMULATION: SOLUTION)
  308. DELATESTRYL [Suspect]
     Active Substance: TESTOSTERONE ENANTHATE
     Dosage: 1 DF
     Route: 030
  309. DELATESTRYL [Suspect]
     Active Substance: TESTOSTERONE ENANTHATE
     Dosage: 1 DF
     Route: 030
  310. DELATESTRYL [Suspect]
     Active Substance: TESTOSTERONE ENANTHATE
     Dosage: SOLUTION INTRAMUSCULAR
     Route: 030
  311. DELATESTRYL [Suspect]
     Active Substance: TESTOSTERONE ENANTHATE
     Dosage: 5 ML
     Route: 065
  312. DELATESTRYL [Suspect]
     Active Substance: TESTOSTERONE ENANTHATE
     Dosage: DRUG_DOSAGE_FORM : LIQUID
     Route: 030
  313. DELATESTRYL [Suspect]
     Active Substance: TESTOSTERONE ENANTHATE
     Dosage: 0.5 ML
     Route: 065
  314. TICAGRELOR [Suspect]
     Active Substance: TICAGRELOR
     Indication: Product used for unknown indication
     Dosage: 1 DF, BID
     Route: 048
  315. TICAGRELOR [Suspect]
     Active Substance: TICAGRELOR
     Dosage: 2 DOSAGE FORMS (1 DOSAGE FORMS,1 IN 12 HR)
  316. TICAGRELOR [Suspect]
     Active Substance: TICAGRELOR
     Dosage: UNK
  317. TICAGRELOR [Suspect]
     Active Substance: TICAGRELOR
     Dosage: 1 DF
     Route: 065
  318. TICAGRELOR [Suspect]
     Active Substance: TICAGRELOR
     Dosage: 1 DF
     Route: 065
  319. DEXILANT [Suspect]
     Active Substance: DEXLANSOPRAZOLE
     Indication: Product used for unknown indication
     Dosage: 1 DF, QD
     Route: 048
  320. DEXILANT [Suspect]
     Active Substance: DEXLANSOPRAZOLE
     Indication: Product used for unknown indication
     Dosage: 1 DF, QD
     Route: 065
  321. DEXILANT [Suspect]
     Active Substance: DEXLANSOPRAZOLE
     Dosage: 1 DF, QD
     Route: 065
  322. DEXILANT [Suspect]
     Active Substance: DEXLANSOPRAZOLE
     Dosage: 1 DF
     Route: 065
  323. DEXILANT [Suspect]
     Active Substance: DEXLANSOPRAZOLE
     Dosage: 0.5 ML, QD
     Route: 065
  324. DEXILANT [Suspect]
     Active Substance: DEXLANSOPRAZOLE
  325. DILTIAZEM [Suspect]
     Active Substance: DILTIAZEM
     Indication: Product used for unknown indication
     Dosage: 1 DF, QD
     Route: 065
  326. DILTIAZEM [Suspect]
     Active Substance: DILTIAZEM
     Indication: Product used for unknown indication
     Dosage: 1 DF, QD
     Route: 065
  327. DILTIAZEM [Suspect]
     Active Substance: DILTIAZEM
  328. DILTIAZEM [Suspect]
     Active Substance: DILTIAZEM
     Dosage: 1 DF
     Route: 065
  329. DILTIAZEM [Suspect]
     Active Substance: DILTIAZEM
     Dosage: 1 DF
     Route: 065
  330. TRAZODONE HYDROCHLORIDE [Suspect]
     Active Substance: TRAZODONE HYDROCHLORIDE
     Indication: Product used for unknown indication
     Dosage: 1 DF, QD
     Route: 065
  331. TRAZODONE HYDROCHLORIDE [Suspect]
     Active Substance: TRAZODONE HYDROCHLORIDE
     Indication: Product used for unknown indication
     Dosage: 1 DF, QD
     Route: 048
  332. TRAZODONE HYDROCHLORIDE [Suspect]
     Active Substance: TRAZODONE HYDROCHLORIDE
     Dosage: 1 UNK
     Route: 065
  333. TRAZODONE HYDROCHLORIDE [Suspect]
     Active Substance: TRAZODONE HYDROCHLORIDE
  334. NITROGLYCERIN [Suspect]
     Active Substance: NITROGLYCERIN
     Indication: Prinzmetal angina
     Dosage: 1 DF
     Route: 048
  335. NITROGLYCERIN [Suspect]
     Active Substance: NITROGLYCERIN
     Dosage: 1 DF
     Route: 048
  336. NITROGLYCERIN [Suspect]
     Active Substance: NITROGLYCERIN
     Dosage: 1 DF
     Route: 049
  337. NITROGLYCERIN [Suspect]
     Active Substance: NITROGLYCERIN
     Route: 065
  338. NITROGLYCERIN [Suspect]
     Active Substance: NITROGLYCERIN
     Route: 048
  339. NITROGLYCERIN [Suspect]
     Active Substance: NITROGLYCERIN
     Route: 048
  340. NITROGLYCERIN [Suspect]
     Active Substance: NITROGLYCERIN
     Route: 048
  341. NITROGLYCERIN [Suspect]
     Active Substance: NITROGLYCERIN
  342. NITROGLYCERIN [Suspect]
     Active Substance: NITROGLYCERIN
     Dosage: 1 DF
     Route: 048
  343. NITROGLYCERIN [Suspect]
     Active Substance: NITROGLYCERIN
     Dosage: 1 DF
     Route: 048
  344. BRILINTA [Suspect]
     Active Substance: TICAGRELOR
     Indication: Product used for unknown indication
     Dosage: 2 DF, QD
     Route: 065
  345. BRILINTA [Suspect]
     Active Substance: TICAGRELOR
     Dosage: 1 UNK
  346. BRILINTA [Suspect]
     Active Substance: TICAGRELOR
     Route: 048
  347. BRILINTA [Suspect]
     Active Substance: TICAGRELOR
     Route: 065
  348. BRILINTA [Suspect]
     Active Substance: TICAGRELOR
     Route: 048
  349. BRILINTA [Suspect]
     Active Substance: TICAGRELOR
     Route: 065
  350. BRILINTA [Suspect]
     Active Substance: TICAGRELOR
     Dosage: 1 DF
     Route: 065
  351. BRILINTA [Suspect]
     Active Substance: TICAGRELOR
     Dosage: 1 UNK
     Route: 048
  352. BRILINTA [Suspect]
     Active Substance: TICAGRELOR
     Dosage: 2 DF UNK
     Route: 048
  353. BRILINTA [Suspect]
     Active Substance: TICAGRELOR
     Dosage: 2 DF UNK
     Route: 065
  354. ESCITALOPRAM [Suspect]
     Active Substance: ESCITALOPRAM OXALATE
     Indication: Product used for unknown indication
     Dosage: 1 DF, QD
  355. ESCITALOPRAM [Suspect]
     Active Substance: ESCITALOPRAM OXALATE
     Indication: Prinzmetal angina
     Dosage: UNK UNK, UNKNOWN FREQ.
     Route: 065
  356. ESCITALOPRAM [Suspect]
     Active Substance: ESCITALOPRAM OXALATE
     Dosage: UNK UNK, UNKNOWN FREQ.
     Route: 065
  357. METOCLOPRAMIDE [Suspect]
     Active Substance: METOCLOPRAMIDE
     Indication: Migraine
     Dosage: 3 UNK, QD
     Route: 065
  358. METOCLOPRAMIDE [Suspect]
     Active Substance: METOCLOPRAMIDE
     Dosage: 1 DF, 1 IN 0.3 DAY
     Route: 065
  359. METOCLOPRAMIDE [Suspect]
     Active Substance: METOCLOPRAMIDE
     Dosage: 3 DF, QD
     Route: 065
  360. METOCLOPRAMIDE [Suspect]
     Active Substance: METOCLOPRAMIDE
     Dosage: 1 DF, 1 IN 0.3 DAY
     Route: 065
  361. METOCLOPRAMIDE [Suspect]
     Active Substance: METOCLOPRAMIDE
  362. NITROGLYCERIN [Suspect]
     Active Substance: NITROGLYCERIN
     Indication: Prinzmetal angina
     Dosage: 1 DF
     Route: 048
  363. ROSUVASTATIN CALCIUM [Suspect]
     Active Substance: ROSUVASTATIN CALCIUM
     Indication: Product used for unknown indication
     Dosage: 1 DF
     Route: 065
  364. ROSUVASTATIN CALCIUM [Suspect]
     Active Substance: ROSUVASTATIN CALCIUM
     Dosage: 1 DF
     Route: 065
  365. ROSUVASTATIN CALCIUM [Suspect]
     Active Substance: ROSUVASTATIN CALCIUM
     Dosage: 1 UNK
     Route: 048
  366. NASONEX [Suspect]
     Active Substance: MOMETASONE FUROATE
     Indication: Product used for unknown indication
     Dosage: 1 DF, QD
     Route: 065
  367. NASONEX [Suspect]
     Active Substance: MOMETASONE FUROATE
     Dosage: 1 DF, QD
     Route: 065
  368. NASONEX [Suspect]
     Active Substance: MOMETASONE FUROATE
     Dosage: 1 DF, QD
     Route: 045
  369. NASONEX [Suspect]
     Active Substance: MOMETASONE FUROATE
     Route: 045
  370. NASONEX [Suspect]
     Active Substance: MOMETASONE FUROATE
     Dosage: INTRA-NASAL, SPRAY METERED DOSE
     Route: 065
  371. HYDROMORPHONE [Suspect]
     Active Substance: HYDROMORPHONE
     Indication: Product used for unknown indication
  372. ESCITALOPRAM OXALATE [Concomitant]
     Active Substance: ESCITALOPRAM OXALATE
     Indication: Product used for unknown indication
     Dosage: UNK
  373. ESCITALOPRAM OXALATE [Concomitant]
     Active Substance: ESCITALOPRAM OXALATE
     Indication: Prinzmetal angina
     Dosage: DAILY DOSE : 1) 1 DOSAGE FORMS (1 DOSAGE FORMS,1 IN 1 D) ROUTE OF ADMIN : 1) UNKNOWN   UNK
  374. ESCITALOPRAM OXALATE [Concomitant]
     Active Substance: ESCITALOPRAM OXALATE
     Dosage: 1 DF
     Route: 065
  375. ESCITALOPRAM OXALATE [Concomitant]
     Active Substance: ESCITALOPRAM OXALATE
     Dosage: UNK UNK, UNKNOWN FREQ.
     Route: 065
  376. ESCITALOPRAM OXALATE [Concomitant]
     Active Substance: ESCITALOPRAM OXALATE
     Dosage: 1 DF
     Route: 065
  377. ESCITALOPRAM OXALATE [Concomitant]
     Active Substance: ESCITALOPRAM OXALATE
     Dosage: 1 DF, UNKNOWN FREQ.
     Route: 065
  378. ESCITALOPRAM OXALATE [Concomitant]
     Active Substance: ESCITALOPRAM OXALATE
     Dosage: UNK UNK, UNKNOWN FREQ.
     Route: 065
  379. ESCITALOPRAM OXALATE [Concomitant]
     Active Substance: ESCITALOPRAM OXALATE
     Dosage: UNK UNK, UNKNOWN FREQ.
     Route: 065
  380. ESCITALOPRAM OXALATE [Concomitant]
     Active Substance: ESCITALOPRAM OXALATE
     Dosage: UNK UNK, UNKNOWN FREQ.
     Route: 065
  381. ESCITALOPRAM OXALATE [Concomitant]
     Active Substance: ESCITALOPRAM OXALATE
     Dosage: 1 DF
     Route: 065
  382. ESCITALOPRAM OXALATE [Concomitant]
     Active Substance: ESCITALOPRAM OXALATE
     Dosage: 1 DF
     Route: 065
  383. ESCITALOPRAM OXALATE [Concomitant]
     Active Substance: ESCITALOPRAM OXALATE
     Dosage: 1 DF, UNKNOWN FREQ.
     Route: 065
  384. ESCITALOPRAM OXALATE [Concomitant]
     Active Substance: ESCITALOPRAM OXALATE
     Dosage: UNK UNK, UNKNOWN FREQ.
     Route: 065
  385. HYDROCORTISONE [Suspect]
     Active Substance: HYDROCORTISONE
     Indication: Product used for unknown indication
     Dosage: 1 DF, QD
     Route: 065
  386. HYDROCORTISONE [Suspect]
     Active Substance: HYDROCORTISONE
     Dosage: 1 DF, QD
     Route: 061
  387. HYDROCORTISONE [Suspect]
     Active Substance: HYDROCORTISONE
     Route: 061
  388. ACETAMINOPHEN [Suspect]
     Active Substance: ACETAMINOPHEN
     Indication: Product used for unknown indication
     Dosage: 160 MG
     Route: 065
  389. ACETAMINOPHEN [Suspect]
     Active Substance: ACETAMINOPHEN
     Indication: Product used for unknown indication
  390. SYNTHROID [Suspect]
     Active Substance: LEVOTHYROXINE SODIUM
     Indication: Product used for unknown indication
     Dosage: 1 DF, QD
  391. SYNTHROID [Suspect]
     Active Substance: LEVOTHYROXINE SODIUM
     Indication: Product used for unknown indication
  392. TRAZODONE [Suspect]
     Active Substance: TRAZODONE HYDROCHLORIDE
     Indication: Product used for unknown indication
     Route: 065
  393. TRAZODONE [Suspect]
     Active Substance: TRAZODONE HYDROCHLORIDE
     Route: 065
  394. ZOPICLONE [Suspect]
     Active Substance: ZOPICLONE
     Indication: Product used for unknown indication
     Route: 048
  395. ZOPICLONE [Suspect]
     Active Substance: ZOPICLONE
     Route: 048
  396. ZOPICLONE [Suspect]
     Active Substance: ZOPICLONE
     Route: 048
  397. ZOPICLONE [Suspect]
     Active Substance: ZOPICLONE
  398. ZOPICLONE [Suspect]
     Active Substance: ZOPICLONE
     Route: 048
  399. ZOPICLONE [Suspect]
     Active Substance: ZOPICLONE
     Route: 048
  400. ZOPICLONE [Suspect]
     Active Substance: ZOPICLONE
     Route: 048
  401. ASPIRIN [Suspect]
     Active Substance: ASPIRIN
     Indication: Prinzmetal angina
  402. ASPIRIN [Suspect]
     Active Substance: ASPIRIN
     Route: 048
  403. ASPIRIN [Suspect]
     Active Substance: ASPIRIN
     Route: 065
  404. ASPIRIN [Suspect]
     Active Substance: ASPIRIN
  405. ESCITALOPRAM OXALATE [Suspect]
     Active Substance: ESCITALOPRAM OXALATE
  406. ESCITALOPRAM OXALATE [Suspect]
     Active Substance: ESCITALOPRAM OXALATE
  407. TRAZODONE HYDROCHLORIDE [Suspect]
     Active Substance: TRAZODONE HYDROCHLORIDE
     Indication: Product used for unknown indication
     Route: 065
  408. NITRO-DUR [Suspect]
     Active Substance: NITROGLYCERIN
     Indication: Product used for unknown indication
     Dosage: PATCH, EXTENDED RELEASE
     Route: 065
  409. NITRO-DUR [Suspect]
     Active Substance: NITROGLYCERIN
  410. NITRO-DUR [Suspect]
     Active Substance: NITROGLYCERIN
  411. NITRO-DUR [Suspect]
     Active Substance: NITROGLYCERIN
     Dosage: PATCH, EXTENDED RELEASE
     Route: 065
  412. CICLOPIROX OLAMINE [Concomitant]
     Active Substance: CICLOPIROX OLAMINE
     Indication: Product used for unknown indication
     Dosage: 1 DF, QD
     Route: 065
  413. CICLOPIROX OLAMINE [Concomitant]
     Active Substance: CICLOPIROX OLAMINE
     Dosage: 3 DF, QD
     Route: 048
  414. CICLOPIROX OLAMINE [Concomitant]
     Active Substance: CICLOPIROX OLAMINE
     Route: 065
  415. CICLOPIROX OLAMINE [Concomitant]
     Active Substance: CICLOPIROX OLAMINE
     Route: 048
  416. CICLOPIROX OLAMINE [Concomitant]
     Active Substance: CICLOPIROX OLAMINE
     Dosage: UNK UNK, UNKNOWN FREQ.
     Route: 065
  417. CICLOPIROX OLAMINE [Concomitant]
     Active Substance: CICLOPIROX OLAMINE
     Route: 048
  418. CICLOPIROX OLAMINE [Concomitant]
     Active Substance: CICLOPIROX OLAMINE
     Route: 065
  419. CICLOPIROX OLAMINE [Concomitant]
     Active Substance: CICLOPIROX OLAMINE
     Dosage: 1 DF, UNKNOWN FREQ.
     Route: 048
  420. CICLOPIROX OLAMINE [Concomitant]
     Active Substance: CICLOPIROX OLAMINE
     Route: 048
  421. CICLOPIROX OLAMINE [Concomitant]
     Active Substance: CICLOPIROX OLAMINE
     Dosage: UNK UNK, UNKNOWN FREQ.
     Route: 065
  422. CICLOPIROX OLAMINE [Concomitant]
     Active Substance: CICLOPIROX OLAMINE
     Dosage: UNK UNK, UNKNOWN FREQ.
     Route: 065
  423. CICLOPIROX OLAMINE [Concomitant]
     Active Substance: CICLOPIROX OLAMINE
     Dosage: UNK UNK, UNKNOWN FREQ.
     Route: 065
  424. RIVOTRIL [Concomitant]
     Active Substance: CLONAZEPAM
     Indication: Product used for unknown indication
     Dosage: 1 DF, Q8H
  425. RIVOTRIL [Concomitant]
     Active Substance: CLONAZEPAM
     Indication: Product used for unknown indication
     Dosage: 0.5 MG
  426. RIVOTRIL [Concomitant]
     Active Substance: CLONAZEPAM
     Dosage: 1 DF, QD
     Route: 048
  427. RIVOTRIL [Concomitant]
     Active Substance: CLONAZEPAM
     Dosage: 1 DF, TID
     Route: 048
  428. RIVOTRIL [Concomitant]
     Active Substance: CLONAZEPAM
     Route: 048
  429. RIVOTRIL [Concomitant]
     Active Substance: CLONAZEPAM
     Dosage: 1 MG
  430. RIVOTRIL [Concomitant]
     Active Substance: CLONAZEPAM
  431. RIVOTRIL [Concomitant]
     Active Substance: CLONAZEPAM
     Dosage: .5 MG
     Route: 065
  432. RIVOTRIL [Concomitant]
     Active Substance: CLONAZEPAM
     Dosage: 1 DF, THRICE DAILY (EVERY 8 HOURS)
     Route: 048
  433. RIVOTRIL [Concomitant]
     Active Substance: CLONAZEPAM
     Dosage: 1 DF, UNKNOWN FREQ.
     Route: 065
  434. RIVOTRIL [Concomitant]
     Active Substance: CLONAZEPAM
     Dosage: 3 DF, THRICE DAILY (EVERY 8 HOURS)
     Route: 065
  435. RIVOTRIL [Concomitant]
     Active Substance: CLONAZEPAM
     Dosage: 3 DF, ONCE DAILY (3 DOSAGE FORMS,1 IN 1 D)
     Route: 048
  436. RIVOTRIL [Concomitant]
     Active Substance: CLONAZEPAM
     Dosage: 1 DF, EVERY 8 HOURS, (3 DOSAGE FORMS (1 DOSAGE FORMS,1 IN 8 HR))
     Route: 048
  437. RIVOTRIL [Concomitant]
     Active Substance: CLONAZEPAM
     Dosage: 3 DF, EVERY 8 HOURS, (9 DOSAGE FORMS (3 DOSAGE FORMS,1 IN 8 HR))
     Route: 048
  438. RIVOTRIL [Concomitant]
     Active Substance: CLONAZEPAM
     Dosage: UNK UNK, UNKNOWN FREQ.
     Route: 065
  439. RIVOTRIL [Concomitant]
     Active Substance: CLONAZEPAM
     Dosage: UNK UNK, UNKNOWN FREQ.
     Route: 065
  440. RIVOTRIL [Concomitant]
     Active Substance: CLONAZEPAM
     Dosage: 1 DF, UNKNOWN FREQ.
     Route: 048
  441. ASPIRIN [Concomitant]
     Active Substance: ASPIRIN
     Indication: Product used for unknown indication
     Dosage: 1 DF, QD
     Route: 065
  442. ASPIRIN [Concomitant]
     Active Substance: ASPIRIN
     Dosage: 1 DF, QD
     Route: 065
  443. ASPIRIN [Concomitant]
     Active Substance: ASPIRIN
     Route: 065
  444. ASPIRIN [Concomitant]
     Active Substance: ASPIRIN
     Route: 065
  445. ASPIRIN [Concomitant]
     Active Substance: ASPIRIN
     Route: 065
  446. ASPIRIN [Concomitant]
     Active Substance: ASPIRIN
     Dosage: 1 DF
     Route: 065
  447. ASPIRIN [Concomitant]
     Active Substance: ASPIRIN
     Dosage: 1 DF
     Route: 065
  448. ASPIRIN [Concomitant]
     Active Substance: ASPIRIN
     Dosage: 1 DF
     Route: 065
  449. ASPIRIN [Concomitant]
     Active Substance: ASPIRIN
     Dosage: 1 DF
     Route: 065
  450. ASPIRIN [Concomitant]
     Active Substance: ASPIRIN
     Dosage: 81 MG
     Route: 065
  451. ROSUVASTATIN CALCIUM [Concomitant]
     Active Substance: ROSUVASTATIN CALCIUM
     Indication: Product used for unknown indication
     Dosage: 1 DF, QD
     Route: 065
  452. ROSUVASTATIN CALCIUM [Concomitant]
     Active Substance: ROSUVASTATIN CALCIUM
     Route: 065
  453. ROSUVASTATIN CALCIUM [Concomitant]
     Active Substance: ROSUVASTATIN CALCIUM
     Route: 048
  454. ROSUVASTATIN CALCIUM [Concomitant]
     Active Substance: ROSUVASTATIN CALCIUM
     Dosage: 1 DF
     Route: 048
  455. ROSUVASTATIN CALCIUM [Concomitant]
     Active Substance: ROSUVASTATIN CALCIUM
     Dosage: UNK UNK, UNKNOWN FREQ.
     Route: 065
  456. ROSUVASTATIN CALCIUM [Concomitant]
     Active Substance: ROSUVASTATIN CALCIUM
     Dosage: 1 DF, ONCE DAILY, 1 DOSAGE FORMS (1 DOSAGE FORMS,1 IN 1 D)
     Route: 065
  457. ROSUVASTATIN CALCIUM [Concomitant]
     Active Substance: ROSUVASTATIN CALCIUM
     Dosage: 1 DF, UNKNOWN FREQ.
     Route: 048
  458. ROSUVASTATIN CALCIUM [Concomitant]
     Active Substance: ROSUVASTATIN CALCIUM
     Dosage: 1 DF, UNKNOWN FREQ.
     Route: 065
  459. ROSUVASTATIN CALCIUM [Concomitant]
     Active Substance: ROSUVASTATIN CALCIUM
     Dosage: 1 DF, UNKNOWN FREQ.
     Route: 065
  460. ROSUVASTATIN CALCIUM [Concomitant]
     Active Substance: ROSUVASTATIN CALCIUM
     Dosage: 1 DF, UNKNOWN FREQ.
     Route: 048
  461. RAMIPRIL [Concomitant]
     Active Substance: RAMIPRIL
     Indication: Product used for unknown indication
     Dosage: 0.25 DOSAGE FORMS (1 DOSAGE FORMS,Q4D)
     Route: 065
  462. RAMIPRIL [Concomitant]
     Active Substance: RAMIPRIL
     Dosage: 0.25 DOSAGE FORMS (1 DOSAGE FORMS,Q4D)
     Route: 065
  463. RAMIPRIL [Concomitant]
     Active Substance: RAMIPRIL
     Dosage: 4 DF
     Route: 048
  464. RAMIPRIL [Concomitant]
     Active Substance: RAMIPRIL
     Dosage: 1 DF
     Route: 048
  465. RAMIPRIL [Concomitant]
     Active Substance: RAMIPRIL
     Dosage: 0.25 DF, 4 TIMES DAILY (0.25 DOSAGE FORMS (1 DOSAGE FORMS,Q4D))
     Route: 065
  466. RAMIPRIL [Concomitant]
     Active Substance: RAMIPRIL
     Dosage: 4 DF
     Route: 048
  467. RAMIPRIL [Concomitant]
     Active Substance: RAMIPRIL
     Dosage: 1 DF
     Route: 048
  468. RAMIPRIL [Concomitant]
     Active Substance: RAMIPRIL
     Dosage: 1 DF, UNKNOWN FREQ.
     Route: 065
  469. ZOPICLONE [Concomitant]
     Active Substance: ZOPICLONE
     Indication: Product used for unknown indication
     Dosage: UNK UNK, UNKNOWN FREQ.
     Route: 065
  470. ZOPICLONE [Concomitant]
     Active Substance: ZOPICLONE
     Dosage: UNK UNK, UNKNOWN FREQ.
     Route: 065
  471. ZOPICLONE [Concomitant]
     Active Substance: ZOPICLONE
     Dosage: UNK UNK, UNKNOWN FREQ.
     Route: 065
  472. ZOPICLONE [Concomitant]
     Active Substance: ZOPICLONE
     Dosage: 1 DF, QD
     Route: 065
  473. ZOPICLONE [Concomitant]
     Active Substance: ZOPICLONE
     Dosage: 1 DF, QD
     Route: 048
  474. CICLOPIROX [Concomitant]
     Active Substance: CICLOPIROX
     Indication: Product used for unknown indication
     Dosage: UNK UNK, UNKNOWN FREQ.
     Route: 065
  475. CICLOPIROX [Concomitant]
     Active Substance: CICLOPIROX
     Indication: Product used for unknown indication
     Dosage: UNK UNK, UNKNOWN FREQ.
     Route: 065
  476. CICLOPIROX [Concomitant]
     Active Substance: CICLOPIROX
     Route: 065
  477. CICLOPIROX [Concomitant]
     Active Substance: CICLOPIROX
     Dosage: UNK UNK, UNKNOWN FREQ.
     Route: 065
  478. ESCITALOPRAM OXALATE [Concomitant]
     Active Substance: ESCITALOPRAM OXALATE
     Indication: Product used for unknown indication
     Dosage: 1 DF, QD
     Route: 065
  479. ESCITALOPRAM OXALATE [Concomitant]
     Active Substance: ESCITALOPRAM OXALATE
     Indication: Product used for unknown indication
  480. ESCITALOPRAM OXALATE [Concomitant]
     Active Substance: ESCITALOPRAM OXALATE
     Route: 065
  481. ESCITALOPRAM OXALATE [Concomitant]
     Active Substance: ESCITALOPRAM OXALATE
  482. ESCITALOPRAM OXALATE [Concomitant]
     Active Substance: ESCITALOPRAM OXALATE
     Dosage: 1 DF, UNKNOWN FREQ.
     Route: 065
  483. ESCITALOPRAM OXALATE [Concomitant]
     Active Substance: ESCITALOPRAM OXALATE
     Dosage: UNK UNK, UNKNOWN FREQ.
     Route: 065
  484. NITROGLYCERIN [Concomitant]
     Active Substance: NITROGLYCERIN
     Indication: Prinzmetal angina
     Dosage: UNK UNK, UNKNOWN FREQ.
     Route: 048
  485. NITROGLYCERIN [Concomitant]
     Active Substance: NITROGLYCERIN
     Dosage: UNK UNK, UNKNOWN FREQ.
     Route: 048
  486. NITROGLYCERIN [Concomitant]
     Active Substance: NITROGLYCERIN
     Dosage: UNK UNK, UNKNOWN FREQ.
     Route: 048
  487. NITROGLYCERIN [Concomitant]
     Active Substance: NITROGLYCERIN
     Dosage: 1 DF, QD
     Route: 048
  488. NITROGLYCERIN [Concomitant]
     Active Substance: NITROGLYCERIN
     Dosage: UNK UNK, UNKNOWN FREQ.
     Route: 048
  489. NITROGLYCERIN [Concomitant]
     Active Substance: NITROGLYCERIN
     Dosage: UNK UNK, UNKNOWN FREQ.
     Route: 048
  490. NITROGLYCERIN [Concomitant]
     Active Substance: NITROGLYCERIN
     Dosage: UNK UNK, UNKNOWN FREQ.
     Route: 048
  491. NITROGLYCERIN [Concomitant]
     Active Substance: NITROGLYCERIN
     Route: 048
  492. NITROGLYCERIN [Concomitant]
     Active Substance: NITROGLYCERIN
     Dosage: UNK UNK, UNKNOWN FREQ.
     Route: 048
  493. NITROGLYCERIN [Concomitant]
     Active Substance: NITROGLYCERIN
     Dosage: UNK UNK, UNKNOWN FREQ.
     Route: 048
  494. NITROGLYCERIN [Concomitant]
     Active Substance: NITROGLYCERIN
     Dosage: UNK UNK, UNKNOWN FREQ.
     Route: 048
  495. NITROGLYCERIN [Concomitant]
     Active Substance: NITROGLYCERIN
     Dosage: 1 DF
     Route: 048
  496. NITROGLYCERIN [Concomitant]
     Active Substance: NITROGLYCERIN
     Dosage: UNK UNK, UNKNOWN FREQ.
     Route: 048
  497. NITROGLYCERIN [Concomitant]
     Active Substance: NITROGLYCERIN
     Dosage: UNK UNK, UNKNOWN FREQ.
     Route: 048
  498. NITROGLYCERIN [Concomitant]
     Active Substance: NITROGLYCERIN
     Dosage: UNK UNK, UNKNOWN FREQ.
     Route: 048
  499. NITROGLYCERIN [Concomitant]
     Active Substance: NITROGLYCERIN
     Dosage: 1 DF
     Route: 048
  500. NITRO-DUR [Concomitant]
     Active Substance: NITROGLYCERIN
     Indication: Product used for unknown indication
     Dosage: 1 DF, QD
     Route: 065
  501. NITRO-DUR [Concomitant]
     Active Substance: NITROGLYCERIN
     Route: 065
  502. NITRO-DUR [Concomitant]
     Active Substance: NITROGLYCERIN
     Dosage: 1 DF
     Route: 065
  503. NITRO-DUR [Concomitant]
     Active Substance: NITROGLYCERIN
     Dosage: 1 DF
     Route: 065
  504. NASONEX [Concomitant]
     Active Substance: MOMETASONE FUROATE
     Indication: Product used for unknown indication
     Dosage: 1 DF, QD
     Route: 045
  505. NASONEX [Concomitant]
     Active Substance: MOMETASONE FUROATE
     Indication: Product used for unknown indication
     Route: 045
  506. NASONEX [Concomitant]
     Active Substance: MOMETASONE FUROATE
     Dosage: 1 UNK
  507. NASONEX [Concomitant]
     Active Substance: MOMETASONE FUROATE
     Dosage: 1 DF, ONCE DAILY (INTRA-NASAL, SPRAY METERED DOSE)
     Route: 055
  508. NASONEX [Concomitant]
     Active Substance: MOMETASONE FUROATE
     Route: 055
  509. NASONEX [Concomitant]
     Active Substance: MOMETASONE FUROATE
     Route: 065
  510. NASONEX [Concomitant]
     Active Substance: MOMETASONE FUROATE
     Dosage: 1 DF, ONCE DAILY, INHALATION (1 DOSAGE FORMS,1 IN 1 D)
     Route: 065
  511. NASONEX [Concomitant]
     Active Substance: MOMETASONE FUROATE
     Dosage: UNK UNK, UNKNOWN FREQ.
     Route: 065
  512. NASONEX [Concomitant]
     Active Substance: MOMETASONE FUROATE
     Dosage: 1 DF, ONCE DAILY, (1 DOSAGE FORMS,1 IN 24 HR)
     Route: 065
  513. NASONEX [Concomitant]
     Active Substance: MOMETASONE FUROATE
     Dosage: 1 DF, ONCE DAILY,1 DOSAGE FORMS (1 DOSAGE FORMS,1 IN 1 D)
     Route: 065
  514. NASONEX [Concomitant]
     Active Substance: MOMETASONE FUROATE
     Dosage: 1 DF, ONCE DAILY,SPRAY, METERED DOSE (1 DOSAGE FORMS,1 IN 1 D)
     Route: 045
  515. NASONEX [Concomitant]
     Active Substance: MOMETASONE FUROATE
     Route: 065
  516. NASONEX [Concomitant]
     Active Substance: MOMETASONE FUROATE
     Route: 065
  517. NASONEX [Concomitant]
     Active Substance: MOMETASONE FUROATE
     Route: 045
  518. NASONEX [Concomitant]
     Active Substance: MOMETASONE FUROATE
     Route: 045
  519. BISOPROLOL FUMARATE [Concomitant]
     Active Substance: BISOPROLOL FUMARATE
     Indication: Product used for unknown indication
     Dosage: 1 DF, QD
     Route: 065
  520. BISOPROLOL FUMARATE [Concomitant]
     Active Substance: BISOPROLOL FUMARATE
     Indication: Product used for unknown indication
     Dosage: 1 DF, QD
     Route: 065
  521. BISOPROLOL FUMARATE [Concomitant]
     Active Substance: BISOPROLOL FUMARATE
     Dosage: 1 DOSAGE FORMS (1 DOSAGE FORMS,1 IN 24 HR)
  522. BISOPROLOL FUMARATE [Concomitant]
     Active Substance: BISOPROLOL FUMARATE
     Route: 065
  523. BISOPROLOL FUMARATE [Concomitant]
     Active Substance: BISOPROLOL FUMARATE
     Route: 065
  524. BISOPROLOL FUMARATE [Concomitant]
     Active Substance: BISOPROLOL FUMARATE
     Dosage: 1 DF
     Route: 048
  525. BISOPROLOL FUMARATE [Concomitant]
     Active Substance: BISOPROLOL FUMARATE
     Dosage: 1 DF
     Route: 065
  526. BISOPROLOL FUMARATE [Concomitant]
     Active Substance: BISOPROLOL FUMARATE
     Dosage: 1 DF, UNKNOWN FREQ.
     Route: 065
  527. BISOPROLOL FUMARATE [Concomitant]
     Active Substance: BISOPROLOL FUMARATE
     Dosage: 1 DF, UNKNOWN FREQ.
     Route: 065
  528. AMLODIPINE [Concomitant]
     Active Substance: AMLODIPINE BESYLATE
     Indication: Product used for unknown indication
     Dosage: 1 DF, QD
     Route: 065
  529. AMLODIPINE [Concomitant]
     Active Substance: AMLODIPINE BESYLATE
     Indication: Product used for unknown indication
     Route: 065
  530. AMLODIPINE [Concomitant]
     Active Substance: AMLODIPINE BESYLATE
     Route: 065
  531. AMLODIPINE [Concomitant]
     Active Substance: AMLODIPINE BESYLATE
     Dosage: UNK UNK, UNKNOWN FREQ.
     Route: 065
  532. AMLODIPINE [Concomitant]
     Active Substance: AMLODIPINE BESYLATE
     Dosage: 1.5 DF, UNKNOWN FREQ.
     Route: 065
  533. LEVOTHYROXINE SODIUM [Concomitant]
     Active Substance: LEVOTHYROXINE SODIUM
     Indication: Product used for unknown indication
     Dosage: UNK
     Route: 065
  534. LEVOTHYROXINE SODIUM [Concomitant]
     Active Substance: LEVOTHYROXINE SODIUM
     Indication: Product used for unknown indication
     Route: 065
  535. LEVOTHYROXINE SODIUM [Concomitant]
     Active Substance: LEVOTHYROXINE SODIUM
     Route: 065
  536. LEVOTHYROXINE SODIUM [Concomitant]
     Active Substance: LEVOTHYROXINE SODIUM
     Dosage: 1 DF
     Route: 065
  537. LEVOTHYROXINE SODIUM [Concomitant]
     Active Substance: LEVOTHYROXINE SODIUM
     Dosage: UNK
     Route: 065
  538. LEVOTHYROXINE SODIUM [Concomitant]
     Active Substance: LEVOTHYROXINE SODIUM
     Dosage: UNK UNK, UNKNOWN FREQ.
     Route: 065
  539. LEVOTHYROXINE SODIUM [Concomitant]
     Active Substance: LEVOTHYROXINE SODIUM
     Dosage: 1 DF
     Route: 065
  540. LEVOTHYROXINE SODIUM [Concomitant]
     Active Substance: LEVOTHYROXINE SODIUM
     Dosage: 1 DF
     Route: 065
  541. LEVOTHYROXINE SODIUM [Concomitant]
     Active Substance: LEVOTHYROXINE SODIUM
     Dosage: 1 DF, UNKNOWN FREQ.
     Route: 065
  542. LEVOTHYROXINE SODIUM [Concomitant]
     Active Substance: LEVOTHYROXINE SODIUM
     Dosage: 1 DF
     Route: 065
  543. RAMIPRIL [Concomitant]
     Active Substance: RAMIPRIL
     Indication: Product used for unknown indication
     Dosage: 1 DF, Q6H
  544. MORNIFLUMATE [Concomitant]
     Active Substance: MORNIFLUMATE
     Indication: Product used for unknown indication
     Dosage: 1 UNK, QD
  545. MORNIFLUMATE [Concomitant]
     Active Substance: MORNIFLUMATE
     Route: 065
  546. MORNIFLUMATE [Concomitant]
     Active Substance: MORNIFLUMATE
     Dosage: 1 UNK, ONCE DAILY
     Route: 065
  547. MORNIFLUMATE [Concomitant]
     Active Substance: MORNIFLUMATE
     Route: 065
  548. ASPIRIN [Concomitant]
     Active Substance: ASPIRIN
     Indication: Prinzmetal angina
     Dosage: 1 DF, QD
  549. ASPIRIN [Concomitant]
     Active Substance: ASPIRIN
     Indication: Product used for unknown indication
     Dosage: 1 DF, QD
     Route: 048
  550. ASPIRIN [Concomitant]
     Active Substance: ASPIRIN
     Route: 065
  551. ASPIRIN [Concomitant]
     Active Substance: ASPIRIN
     Dosage: 1 DF, UNKNOWN FREQ.
     Route: 065
  552. HYDROCORTISONE BUTYRATE [Concomitant]
     Active Substance: HYDROCORTISONE BUTYRATE
     Indication: Product used for unknown indication
     Route: 061
  553. HYDROCORTISONE BUTYRATE [Concomitant]
     Active Substance: HYDROCORTISONE BUTYRATE
     Route: 061
  554. HYDROCORTISONE BUTYRATE [Concomitant]
     Active Substance: HYDROCORTISONE BUTYRATE
     Dosage: UNK UNK, UNKNOWN FREQ.
     Route: 065
  555. HYDROCORTISONE BUTYRATE [Concomitant]
     Active Substance: HYDROCORTISONE BUTYRATE
     Dosage: UNK UNK, UNKNOWN FREQ.
     Route: 061
  556. HYDROCORTISONE BUTYRATE [Concomitant]
     Active Substance: HYDROCORTISONE BUTYRATE
     Dosage: UNK UNK, UNKNOWN FREQ.
     Route: 065
  557. HYDROCORTISONE BUTYRATE [Concomitant]
     Active Substance: HYDROCORTISONE BUTYRATE
     Dosage: 1 DF, UNKNOWN FREQ.
     Route: 061
  558. HYDROCORTISONE BUTYRATE [Concomitant]
     Active Substance: HYDROCORTISONE BUTYRATE
     Dosage: 1 DF
     Route: 065
  559. HYDROCORTISONE BUTYRATE [Concomitant]
     Active Substance: HYDROCORTISONE BUTYRATE
     Dosage: 1 DF, UNKNOWN FREQ.
     Route: 065
  560. HYDROCORTISONE BUTYRATE [Concomitant]
     Active Substance: HYDROCORTISONE BUTYRATE
     Dosage: 1 DF
     Route: 061
  561. BENZOYL PEROXIDE [Concomitant]
     Active Substance: BENZOYL PEROXIDE
     Indication: Product used for unknown indication
     Route: 061
  562. BENZOYL PEROXIDE [Concomitant]
     Active Substance: BENZOYL PEROXIDE
     Route: 061
  563. BENZOYL PEROXIDE [Concomitant]
     Active Substance: BENZOYL PEROXIDE
     Dosage: 1 DF
     Route: 061
  564. BENZOYL PEROXIDE [Concomitant]
     Active Substance: BENZOYL PEROXIDE
     Dosage: 1 DF
     Route: 061
  565. HYDROMORPHONE [Concomitant]
     Active Substance: HYDROMORPHONE
     Indication: Product used for unknown indication
  566. HYDROMORPHONE [Concomitant]
     Active Substance: HYDROMORPHONE
     Indication: Product used for unknown indication
  567. HYDROMORPHONE [Concomitant]
     Active Substance: HYDROMORPHONE
     Dosage: UNK UNK, UNKNOWN FREQ.
     Route: 065
  568. PREDNISONE [Concomitant]
     Active Substance: PREDNISONE
     Indication: Product used for unknown indication
  569. PREDNISONE [Concomitant]
     Active Substance: PREDNISONE
     Indication: Product used for unknown indication
     Dosage: NOT SPECIFIED
  570. PREDNISONE [Concomitant]
     Active Substance: PREDNISONE
     Indication: Product used for unknown indication
     Dosage: UNK UNK, UNKNOWN FREQ.
     Route: 065
  571. METOCLOPRAMIDE HYDROCHLORIDE [Concomitant]
     Active Substance: METOCLOPRAMIDE HYDROCHLORIDE
     Indication: Migraine
     Route: 065
  572. METOCLOPRAMIDE HYDROCHLORIDE [Concomitant]
     Active Substance: METOCLOPRAMIDE HYDROCHLORIDE
     Route: 065
  573. METOCLOPRAMIDE HYDROCHLORIDE [Concomitant]
     Active Substance: METOCLOPRAMIDE HYDROCHLORIDE
     Route: 048
  574. METOCLOPRAMIDE HYDROCHLORIDE [Concomitant]
     Active Substance: METOCLOPRAMIDE HYDROCHLORIDE
     Dosage: 3 DF, THRICE DAILY
     Route: 065
  575. METOCLOPRAMIDE HYDROCHLORIDE [Concomitant]
     Active Substance: METOCLOPRAMIDE HYDROCHLORIDE
     Route: 065
  576. METOCLOPRAMIDE HYDROCHLORIDE [Concomitant]
     Active Substance: METOCLOPRAMIDE HYDROCHLORIDE
     Dosage: 1 DF, UNKNOWN FREQ.
     Route: 065
  577. METOCLOPRAMIDE HYDROCHLORIDE [Concomitant]
     Active Substance: METOCLOPRAMIDE HYDROCHLORIDE
     Dosage: 1 DF, UNKNOWN FREQ.
     Route: 048
  578. METOCLOPRAMIDE HYDROCHLORIDE [Concomitant]
     Active Substance: METOCLOPRAMIDE HYDROCHLORIDE
     Dosage: 3 DF, UNKNOWN FREQ.
     Route: 065
  579. METOCLOPRAMIDE HYDROCHLORIDE [Concomitant]
     Active Substance: METOCLOPRAMIDE HYDROCHLORIDE
     Dosage: 1 DF, UNKNOWN FREQ.
     Route: 065
  580. TRAZODONE HYDROCHLORIDE [Concomitant]
     Active Substance: TRAZODONE HYDROCHLORIDE
     Indication: Product used for unknown indication
     Dosage: UNK UNK, UNKNOWN FREQ.
     Route: 065
  581. TRAZODONE HYDROCHLORIDE [Concomitant]
     Active Substance: TRAZODONE HYDROCHLORIDE
     Route: 065
  582. TRAZODONE HYDROCHLORIDE [Concomitant]
     Active Substance: TRAZODONE HYDROCHLORIDE
     Route: 065
  583. TRAZODONE HYDROCHLORIDE [Concomitant]
     Active Substance: TRAZODONE HYDROCHLORIDE
     Dosage: 1 DF, ONCE DAILY, 1 DOSAGE FORMS (1 DOSAGE FORMS,1 IN 1 D)
     Route: 065
  584. TRAZODONE HYDROCHLORIDE [Concomitant]
     Active Substance: TRAZODONE HYDROCHLORIDE
     Dosage: 1 DF, ONCE DAILY, 1 DOSAGE FORMS (1 DOSAGE FORMS,1 IN 1 D)
     Route: 065
  585. TRAZODONE HYDROCHLORIDE [Concomitant]
     Active Substance: TRAZODONE HYDROCHLORIDE
     Dosage: 1 DF, UNKNOWN FREQ.
     Route: 065
  586. TRAZODONE HYDROCHLORIDE [Concomitant]
     Active Substance: TRAZODONE HYDROCHLORIDE
     Dosage: 1 DF, UNKNOWN FREQ.
     Route: 065
  587. TRAZODONE HYDROCHLORIDE [Concomitant]
     Active Substance: TRAZODONE HYDROCHLORIDE
     Dosage: UNK UNK, UNKNOWN FREQ.
     Route: 065
  588. TRAZODONE HYDROCHLORIDE [Concomitant]
     Active Substance: TRAZODONE HYDROCHLORIDE
     Dosage: 1 DF, ONCE DAILY, 1 DOSAGE FORMS (1 DOSAGE FORMS,1 IN 1 D)
     Route: 065
  589. TRAZODONE HYDROCHLORIDE [Concomitant]
     Active Substance: TRAZODONE HYDROCHLORIDE
     Dosage: 1 DF, UNKNOWN FREQ.
     Route: 065
  590. ACETAMINOPHEN\CODEINE PHOSPHATE [Concomitant]
     Active Substance: ACETAMINOPHEN\CODEINE PHOSPHATE
     Indication: Product used for unknown indication
     Dosage: UNK UNK, UNKNOWN FREQ.
     Route: 048
  591. ACETAMINOPHEN\CODEINE PHOSPHATE [Concomitant]
     Active Substance: ACETAMINOPHEN\CODEINE PHOSPHATE
     Route: 065
  592. ACETAMINOPHEN\CODEINE PHOSPHATE [Concomitant]
     Active Substance: ACETAMINOPHEN\CODEINE PHOSPHATE
     Route: 048
  593. ACETAMINOPHEN\CODEINE PHOSPHATE [Concomitant]
     Active Substance: ACETAMINOPHEN\CODEINE PHOSPHATE
     Dosage: UNK UNK, EVERY 6 HOURS
     Route: 065
  594. TESTOSTERONE [Concomitant]
     Active Substance: TESTOSTERONE
     Indication: Product used for unknown indication
     Dosage: 0.5 ML, ONCE DAILY
     Route: 065
  595. TESTOSTERONE [Concomitant]
     Active Substance: TESTOSTERONE
     Dosage: 0.5 ML, UNKNOWN FREQ.
     Route: 030
  596. TESTOSTERONE [Concomitant]
     Active Substance: TESTOSTERONE
     Dosage: 5 ML, UNKNOWN FREQ.
     Route: 065
  597. ALPRAZOLAM [Concomitant]
     Active Substance: ALPRAZOLAM
     Indication: Product used for unknown indication
     Dosage: UNK UNK, UNKNOWN FREQ.
     Route: 065
  598. ALPRAZOLAM [Concomitant]
     Active Substance: ALPRAZOLAM
     Dosage: UNK UNK, UNKNOWN FREQ.
     Route: 065
  599. ALPRAZOLAM [Concomitant]
     Active Substance: ALPRAZOLAM
     Dosage: UNK UNK, UNKNOWN FREQ.
     Route: 065
  600. ALPRAZOLAM [Concomitant]
     Active Substance: ALPRAZOLAM
     Dosage: UNK UNK, UNKNOWN FREQ.
     Route: 065
  601. ACETAMINOPHEN [Concomitant]
     Active Substance: ACETAMINOPHEN
     Indication: Product used for unknown indication
     Dosage: UNK UNK, UNKNOWN FREQ.
     Route: 065
  602. ACETAMINOPHEN [Concomitant]
     Active Substance: ACETAMINOPHEN
     Dosage: UNK UNK, UNKNOWN FREQ.
     Route: 065
  603. DILTIAZEM HYDROCHLORIDE [Concomitant]
     Active Substance: DILTIAZEM HYDROCHLORIDE
     Indication: Product used for unknown indication
     Route: 065
  604. DILTIAZEM HYDROCHLORIDE [Concomitant]
     Active Substance: DILTIAZEM HYDROCHLORIDE
     Route: 048
  605. DILTIAZEM HYDROCHLORIDE [Concomitant]
     Active Substance: DILTIAZEM HYDROCHLORIDE
     Route: 048
  606. DILTIAZEM HYDROCHLORIDE [Concomitant]
     Active Substance: DILTIAZEM HYDROCHLORIDE
     Route: 048
  607. DILTIAZEM HYDROCHLORIDE [Concomitant]
     Active Substance: DILTIAZEM HYDROCHLORIDE
     Route: 065
  608. DILTIAZEM HYDROCHLORIDE [Concomitant]
     Active Substance: DILTIAZEM HYDROCHLORIDE
     Route: 065
  609. DILTIAZEM HYDROCHLORIDE [Concomitant]
     Active Substance: DILTIAZEM HYDROCHLORIDE
     Dosage: 1 DF, UNKNOWN FREQ.
     Route: 065
  610. TICAGRELOR [Concomitant]
     Active Substance: TICAGRELOR
     Indication: Product used for unknown indication
     Route: 048
  611. TICAGRELOR [Concomitant]
     Active Substance: TICAGRELOR
     Route: 065
  612. TICAGRELOR [Concomitant]
     Active Substance: TICAGRELOR
     Route: 048
  613. TICAGRELOR [Concomitant]
     Active Substance: TICAGRELOR
     Dosage: 1 DF, EVERY 12 HOURS, 2 DOSAGE FORMS (1 DOSAGE FORMS,1 IN 12 HR)
     Route: 065
  614. TICAGRELOR [Concomitant]
     Active Substance: TICAGRELOR
     Dosage: UNK UNK, UNKNOWN FREQ.
     Route: 065
  615. TICAGRELOR [Concomitant]
     Active Substance: TICAGRELOR
     Dosage: 1 DF, UNKNOWN FREQ.
     Route: 065
  616. BISOPROLOL FUMARATE [Concomitant]
     Active Substance: BISOPROLOL FUMARATE
     Indication: Product used for unknown indication
     Dosage: 1 DF, QD
     Route: 065
  617. BISOPROLOL FUMARATE [Concomitant]
     Active Substance: BISOPROLOL FUMARATE
     Indication: Product used for unknown indication
     Route: 065
  618. BISOPROLOL FUMARATE [Concomitant]
     Active Substance: BISOPROLOL FUMARATE
     Route: 065
  619. BISOPROLOL FUMARATE [Concomitant]
     Active Substance: BISOPROLOL FUMARATE
     Route: 065
  620. BISOPROLOL FUMARATE [Concomitant]
     Active Substance: BISOPROLOL FUMARATE
     Route: 065
  621. ASPIRIN [Concomitant]
     Active Substance: ASPIRIN
     Indication: Prinzmetal angina
     Route: 048
  622. ASPIRIN [Concomitant]
     Active Substance: ASPIRIN
     Indication: Product used for unknown indication
     Route: 065
  623. ASPIRIN [Concomitant]
     Active Substance: ASPIRIN
     Dosage: 81 MG, UNKNOWN FREQ.
     Route: 065
  624. ASPIRIN [Concomitant]
     Active Substance: ASPIRIN
     Dosage: UNK UNK, UNKNOWN FREQ.
     Route: 065
  625. ASPIRIN [Concomitant]
     Active Substance: ASPIRIN
     Dosage: 1 DF, ONCE DAILY, (1 DOSAGE FORMS,1 IN 1 D)
     Route: 048
  626. ASPIRIN [Concomitant]
     Active Substance: ASPIRIN
     Dosage: 1 DF, UNKNOWN FREQ.
     Route: 065
  627. ASPIRIN [Concomitant]
     Active Substance: ASPIRIN
     Dosage: 81 MG, UNKNOWN FREQ.
     Route: 065
  628. ASPIRIN [Concomitant]
     Active Substance: ASPIRIN
     Route: 065
  629. ASPIRIN [Concomitant]
     Active Substance: ASPIRIN
     Route: 065
  630. ASPIRIN [Concomitant]
     Active Substance: ASPIRIN
     Route: 065
  631. ASPIRIN [Concomitant]
     Active Substance: ASPIRIN
     Dosage: 81 MG, UNKNOWN FREQ.
     Route: 065
  632. ASPIRIN [Concomitant]
     Active Substance: ASPIRIN
     Dosage: UNK UNK, UNKNOWN FREQ.
     Route: 065
  633. ASPIRIN [Concomitant]
     Active Substance: ASPIRIN
     Dosage: UNK UNK, UNKNOWN FREQ.
     Route: 065
  634. ASPIRIN [Concomitant]
     Active Substance: ASPIRIN
     Dosage: 1 DF, UNKNOWN FREQ.
     Route: 065
  635. ASPIRIN [Concomitant]
     Active Substance: ASPIRIN
     Dosage: UNK UNK, UNKNOWN FREQ.
     Route: 048
  636. ASPIRIN [Concomitant]
     Active Substance: ASPIRIN
     Dosage: 1 DF, UNKNOWN FREQ.
     Route: 065
  637. HYDROCORTISONE [Concomitant]
     Active Substance: HYDROCORTISONE
     Indication: Product used for unknown indication
  638. HYDROCORTISONE [Concomitant]
     Active Substance: HYDROCORTISONE
     Indication: Product used for unknown indication
  639. HYDROCORTISONE [Concomitant]
     Active Substance: HYDROCORTISONE
     Route: 061
  640. HYDROCORTISONE [Concomitant]
     Active Substance: HYDROCORTISONE
     Dosage: 1 DF, ONCE DAILY (1 IN 1 D)
     Route: 065
  641. HYDROCORTISONE [Concomitant]
     Active Substance: HYDROCORTISONE
     Dosage: UNK UNK, UNKNOWN FREQ.
     Route: 065
  642. HYDROCORTISONE [Concomitant]
     Active Substance: HYDROCORTISONE
     Dosage: 1 DF, UNKNOWN FREQ.
     Route: 061
  643. HYDROCORTISONE [Concomitant]
     Active Substance: HYDROCORTISONE
     Route: 065
  644. HYDROCORTISONE [Concomitant]
     Active Substance: HYDROCORTISONE
     Route: 061
  645. HYDROCORTISONE [Concomitant]
     Active Substance: HYDROCORTISONE
     Dosage: 1 DF, UNKNOWN FREQ.
     Route: 061
  646. METOCLOPRAMIDE [Concomitant]
     Active Substance: METOCLOPRAMIDE
     Indication: Migraine
  647. METOCLOPRAMIDE [Concomitant]
     Active Substance: METOCLOPRAMIDE
  648. METOCLOPRAMIDE [Concomitant]
     Active Substance: METOCLOPRAMIDE
     Route: 048
  649. METOCLOPRAMIDE [Concomitant]
     Active Substance: METOCLOPRAMIDE
     Route: 048
  650. METOCLOPRAMIDE [Concomitant]
     Active Substance: METOCLOPRAMIDE
     Dosage: 3 DF, THRICE DAILY (EVERY 8 HOURS)
     Route: 065
  651. METOCLOPRAMIDE [Concomitant]
     Active Substance: METOCLOPRAMIDE
     Dosage: UNK,UNK, THRICE DAILY (EVERY 8 HOURS)
     Route: 065
  652. METOCLOPRAMIDE [Concomitant]
     Active Substance: METOCLOPRAMIDE
     Route: 065
  653. METOCLOPRAMIDE [Concomitant]
     Active Substance: METOCLOPRAMIDE
     Dosage: 3 DF, UNKNOWN FREQ.
     Route: 065
  654. METOCLOPRAMIDE [Concomitant]
     Active Substance: METOCLOPRAMIDE
     Dosage: UNK UNK, UNKNOWN FREQ.
     Route: 065
  655. METOCLOPRAMIDE [Concomitant]
     Active Substance: METOCLOPRAMIDE
     Route: 065
  656. METOCLOPRAMIDE [Concomitant]
     Active Substance: METOCLOPRAMIDE
     Dosage: 1 DF, UNKNOWN FREQ.
     Route: 065
  657. METOCLOPRAMIDE [Concomitant]
     Active Substance: METOCLOPRAMIDE
     Dosage: 1 DF, THRICE DAILY (EVERY 8 HOURS)
     Route: 065
  658. METOCLOPRAMIDE [Concomitant]
     Active Substance: METOCLOPRAMIDE
     Dosage: 1 DF, EVERY 8 HOURS, 3 DOSAGE FORMS (1 DOSAGE FORMS,1 IN 8 HR)
     Route: 065
  659. METOCLOPRAMIDE [Concomitant]
     Active Substance: METOCLOPRAMIDE
     Dosage: 1 DF, EVERY 8 HOURS, 3 DOSAGE FORMS (1 DOSAGE FORMS,1 IN 8 HR)
     Route: 048
  660. METOCLOPRAMIDE [Concomitant]
     Active Substance: METOCLOPRAMIDE
     Dosage: 1 DF, ONCE DAILY, 3 DOSAGE FORMS (3 DOSAGE FORMS,1 IN 1 D)
     Route: 065
  661. METOCLOPRAMIDE [Concomitant]
     Active Substance: METOCLOPRAMIDE
     Dosage: 1 DF, EVERY 8 HOURS, NOT SPECIFIED (1 DOSAGE FORMS,1 IN 8 HR)
     Route: 065
  662. METOCLOPRAMIDE [Concomitant]
     Active Substance: METOCLOPRAMIDE
     Dosage: 3 UNK, ONCE DAILY
     Route: 065
  663. METOCLOPRAMIDE [Concomitant]
     Active Substance: METOCLOPRAMIDE
     Dosage: 1 DF, 1 IN 0.3 DAY
     Route: 065
  664. METOCLOPRAMIDE [Concomitant]
     Active Substance: METOCLOPRAMIDE
     Route: 065
  665. METOCLOPRAMIDE [Concomitant]
     Active Substance: METOCLOPRAMIDE
     Dosage: 1 DF, 1 IN 0.3 DAY
     Route: 065
  666. METOCLOPRAMIDE [Concomitant]
     Active Substance: METOCLOPRAMIDE
     Dosage: 1 DF, UNKNOWN FREQ.
     Route: 065
  667. ZOPICLONE [Concomitant]
     Active Substance: ZOPICLONE
     Indication: Product used for unknown indication
  668. ZOPICLONE [Concomitant]
     Active Substance: ZOPICLONE
     Indication: Product used for unknown indication
  669. ZOPICLONE [Concomitant]
     Active Substance: ZOPICLONE
     Route: 065
  670. ZOPICLONE [Concomitant]
     Active Substance: ZOPICLONE
     Dosage: 1 DF, UNKNOWN FREQ.
     Route: 065
  671. ZOPICLONE [Concomitant]
     Active Substance: ZOPICLONE
     Route: 065
  672. ZOPICLONE [Concomitant]
     Active Substance: ZOPICLONE
     Dosage: UNK UNK, UNKNOWN FREQ.
     Route: 065
  673. ZOPICLONE [Concomitant]
     Active Substance: ZOPICLONE
     Dosage: 1 DF, UNKNOWN FREQ.
     Route: 065
  674. ZOPICLONE [Concomitant]
     Active Substance: ZOPICLONE
     Dosage: UNK UNK, UNKNOWN FREQ.
     Route: 065
  675. ZOPICLONE [Concomitant]
     Active Substance: ZOPICLONE
     Dosage: 1 DF, ONCE DAILY, 1 DOSAGE FORMS (1 DOSAGE FORMS,1 IN 1 D)
     Route: 048
  676. ZOPICLONE [Concomitant]
     Active Substance: ZOPICLONE
     Dosage: 1 DF, ONCE DAILY, 1 DOSAGE FORMS (1 DOSAGE FORMS,1 IN 1 D)
     Route: 065
  677. ZOPICLONE [Concomitant]
     Active Substance: ZOPICLONE
     Dosage: 1 DF, UNKNOWN FREQ.
     Route: 065
  678. ZOPICLONE [Concomitant]
     Active Substance: ZOPICLONE
     Dosage: 1 DF, UNKNOWN FREQ.
     Route: 048
  679. ZOPICLONE [Concomitant]
     Active Substance: ZOPICLONE
     Dosage: 1 DF, UNKNOWN FREQ.
     Route: 048
  680. ZOPICLONE [Concomitant]
     Active Substance: ZOPICLONE
     Dosage: 1 DF, UNKNOWN FREQ.
     Route: 065
  681. NITROGLYCERIN [Concomitant]
     Active Substance: NITROGLYCERIN
     Indication: Prinzmetal angina
     Route: 048
  682. NITROGLYCERIN [Concomitant]
     Active Substance: NITROGLYCERIN
     Route: 065
  683. NITROGLYCERIN [Concomitant]
     Active Substance: NITROGLYCERIN
     Dosage: 1 DF, ONCE DAILY, 1 DOSAGE FORMS (1 DOSAGE FORMS,1 IN 1 D)
     Route: 065
  684. NITROGLYCERIN [Concomitant]
     Active Substance: NITROGLYCERIN
     Dosage: UNK UNK, UNKNOWN FREQ.
     Route: 048
  685. NITROGLYCERIN [Concomitant]
     Active Substance: NITROGLYCERIN
     Dosage: 1 DF, UNKNOWN FREQ.
     Route: 048
  686. NITROGLYCERIN [Concomitant]
     Active Substance: NITROGLYCERIN
     Indication: Prinzmetal angina
  687. NITROGLYCERIN [Concomitant]
     Active Substance: NITROGLYCERIN
     Dosage: 1 DF, UNKNOWN FREQ.
     Route: 048
  688. NITROGLYCERIN [Concomitant]
     Active Substance: NITROGLYCERIN
     Dosage: 1 DF, ONCE DAILY, 1 DOSAGE FORMS (1 DOSAGE FORMS,1 IN 1 D)
     Route: 048
  689. NITROGLYCERIN [Concomitant]
     Active Substance: NITROGLYCERIN
     Route: 048
  690. NITROGLYCERIN [Concomitant]
     Active Substance: NITROGLYCERIN
     Dosage: 1 DF, ONCE DAILY, 1 DOSAGE FORMS (1 DOSAGE FORMS,1 IN 1 D)
     Route: 048
  691. NITROGLYCERIN [Concomitant]
     Active Substance: NITROGLYCERIN
     Route: 048
  692. NITROGLYCERIN [Concomitant]
     Active Substance: NITROGLYCERIN
     Dosage: 1 DF, UNKNOWN FREQ.(OROMUCOSAL SPRAY)
     Route: 048
  693. NITROGLYCERIN [Concomitant]
     Active Substance: NITROGLYCERIN
     Dosage: 1 DF, UNKNOWN FREQ.(OROMUCOSAL SPRAY)
     Route: 048
  694. NITROGLYCERIN [Concomitant]
     Active Substance: NITROGLYCERIN
     Dosage: 1 DF, UNKNOWN FREQ.(OROMUCOSAL SPRAY)
     Route: 048
  695. NITROGLYCERIN [Concomitant]
     Active Substance: NITROGLYCERIN
     Dosage: 1 DF, UNKNOWN FREQ.(OROMUCOSAL SPRAY)
     Route: 048
  696. NITROGLYCERIN [Concomitant]
     Active Substance: NITROGLYCERIN
     Dosage: 1 DF, UNKNOWN FREQ.(OROMUCOSAL SPRAY)
     Route: 048
  697. NITROGLYCERIN [Concomitant]
     Active Substance: NITROGLYCERIN
     Dosage: UNK UNK, UNKNOWN FREQ.
     Route: 065
  698. NITROGLYCERIN [Concomitant]
     Active Substance: NITROGLYCERIN
     Dosage: 1 DF, UNKNOWN FREQ.(OROMUCOSAL SPRAY)
     Route: 048
  699. NITROGLYCERIN [Concomitant]
     Active Substance: NITROGLYCERIN
     Dosage: 1 DF, UNKNOWN FREQ.(OROMUCOSAL SPRAY)
     Route: 048
  700. ACETAMINOPHEN [Concomitant]
     Active Substance: ACETAMINOPHEN
     Dosage: 160 MG, UNKNOWN FREQ.
     Route: 065
  701. DILTIAZEM [Concomitant]
     Active Substance: DILTIAZEM
     Route: 065
  702. DILTIAZEM [Concomitant]
     Active Substance: DILTIAZEM
     Route: 065
  703. DILTIAZEM [Concomitant]
     Active Substance: DILTIAZEM
     Dosage: 1 DF, UNKNOWN FREQ.
     Route: 065
  704. DELATESTRYL [Concomitant]
     Active Substance: TESTOSTERONE ENANTHATE
     Dosage: 0.5 ML, EVERY 2 WEEKS (QOW)
     Route: 030
  705. DELATESTRYL [Concomitant]
     Active Substance: TESTOSTERONE ENANTHATE
     Dosage: 0.5 ML, ONCE DAILY
     Route: 030
  706. DELATESTRYL [Concomitant]
     Active Substance: TESTOSTERONE ENANTHATE
     Dosage: 0.5 ML, EVERY 2 WEEKS
     Route: 030
  707. DELATESTRYL [Concomitant]
     Active Substance: TESTOSTERONE ENANTHATE
     Dosage: 5 ML, 2 WEEKS
     Route: 030
  708. DELATESTRYL [Concomitant]
     Active Substance: TESTOSTERONE ENANTHATE
     Dosage: 0.5 ML, EVERY 2 WEEKS, (FILL SIZE: 5 ML) (0.5 ML,1 IN 2 WK)
     Route: 030
  709. DELATESTRYL [Concomitant]
     Active Substance: TESTOSTERONE ENANTHATE
     Dosage: 1 DF, (1 DOSAGE FORMS,1 IN 2 D)
     Route: 030
  710. DELATESTRYL [Concomitant]
     Active Substance: TESTOSTERONE ENANTHATE
     Dosage: 1 DF, EVERY 12 HOURS, 2 DOSAGE FORMS (1 DOSAGE FORMS,1 IN 12 HR)
     Route: 030
  711. DELATESTRYL [Concomitant]
     Active Substance: TESTOSTERONE ENANTHATE
     Dosage: 5 ML, EVERY 2 WEEKS, (5 ML,1 IN 2 WK)
     Route: 030
  712. DELATESTRYL [Concomitant]
     Active Substance: TESTOSTERONE ENANTHATE
     Dosage: 1 DF, EVERY 12 HOURS, 2 DOSAGE FORMS (1 DOSAGE FORMS,1 IN 12 HR)
     Route: 030
  713. DELATESTRYL [Concomitant]
     Active Substance: TESTOSTERONE ENANTHATE
     Dosage: 1 DF, UNKNOWN FREQ. (1 DOSAGE FORMS)
     Route: 030
  714. DELATESTRYL [Concomitant]
     Active Substance: TESTOSTERONE ENANTHATE
     Dosage: 0.5 ML, UNKNOWN FREQ.
     Route: 030
  715. DELATESTRYL [Concomitant]
     Active Substance: TESTOSTERONE ENANTHATE
     Dosage: 5 ML, 0.7143 ML (5 ML,1 IN 1 WK)
     Route: 065
  716. DELATESTRYL [Concomitant]
     Active Substance: TESTOSTERONE ENANTHATE
     Dosage: 0.5 ML, UNKNOWN FREQ.
     Route: 030
  717. DELATESTRYL [Concomitant]
     Active Substance: TESTOSTERONE ENANTHATE
     Dosage: 1 DF, UNKNOWN FREQ.
     Route: 030
  718. DELATESTRYL [Concomitant]
     Active Substance: TESTOSTERONE ENANTHATE
     Dosage: 1 DF, TWICE DAILY (EVERY 12 HOURS)
     Route: 030
  719. DELATESTRYL [Concomitant]
     Active Substance: TESTOSTERONE ENANTHATE
     Dosage: 5 ML, ONCE WEEKLY (QW)
     Route: 030
  720. DELATESTRYL [Concomitant]
     Active Substance: TESTOSTERONE ENANTHATE
     Dosage: 1 DF, UNKNOWN FREQ.
     Route: 030
  721. DELATESTRYL [Concomitant]
     Active Substance: TESTOSTERONE ENANTHATE
     Dosage: 1 DF, UNKNOWN FREQ.
     Route: 030
  722. DELATESTRYL [Concomitant]
     Active Substance: TESTOSTERONE ENANTHATE
     Dosage: 0.5 ML, UNKNOWN FREQ.
     Route: 030
  723. DELATESTRYL [Concomitant]
     Active Substance: TESTOSTERONE ENANTHATE
     Dosage: 5 ML, UNKNOWN FREQ.
     Route: 065
  724. DELATESTRYL [Concomitant]
     Active Substance: TESTOSTERONE ENANTHATE
     Dosage: UNK UNK, UNKNOWN FREQ.
     Route: 030
  725. DELATESTRYL [Concomitant]
     Active Substance: TESTOSTERONE ENANTHATE
     Dosage: 0.5 ML, UNKNOWN FREQ.
     Route: 065
  726. DELATESTRYL [Concomitant]
     Active Substance: TESTOSTERONE ENANTHATE
     Dosage: 0.5 ML, UNKNOWN FREQ.
     Route: 065
  727. DELATESTRYL [Concomitant]
     Active Substance: TESTOSTERONE ENANTHATE
     Dosage: 1 ML, UNKNOWN FREQ.
     Route: 065
  728. DELATESTRYL [Concomitant]
     Active Substance: TESTOSTERONE ENANTHATE
     Dosage: 1 DF, UNKNOWN FREQ. (FORMULATION: SOLUTION)
     Route: 030
  729. DELATESTRYL [Concomitant]
     Active Substance: TESTOSTERONE ENANTHATE
     Dosage: 1 DF, UNKNOWN FREQ. (FORMULATION: SOLUTION FOR INJECTION)
     Route: 030
  730. DELATESTRYL [Concomitant]
     Active Substance: TESTOSTERONE ENANTHATE
     Dosage: 1 ML, UNKNOWN FREQ. (FORMULATION: SOLUTION FOR INJECTION)
     Route: 030
  731. DELATESTRYL [Concomitant]
     Active Substance: TESTOSTERONE ENANTHATE
     Dosage: 5 ML, UNKNOWN FREQ. (FORMULATION: SOLUTION FOR INJECTION)
     Route: 030
  732. BRILINTA [Concomitant]
     Active Substance: TICAGRELOR
     Indication: Product used for unknown indication
     Dosage: 1 DF, TWICE DAILY (EVERY 12 HOURS)
     Route: 048
  733. BRILINTA [Concomitant]
     Active Substance: TICAGRELOR
     Dosage: 1 DF, UNKNOWN FREQ.
     Route: 048
  734. BRILINTA [Concomitant]
     Active Substance: TICAGRELOR
     Route: 065
  735. BRILINTA [Concomitant]
     Active Substance: TICAGRELOR
     Dosage: 1 DF, UNKNOWN FREQ.
     Route: 065
  736. BRILINTA [Concomitant]
     Active Substance: TICAGRELOR
     Route: 048
  737. BRILINTA [Concomitant]
     Active Substance: TICAGRELOR
     Dosage: 1 DF, UNKNOWN FREQ.
     Route: 065
  738. BRILINTA [Concomitant]
     Active Substance: TICAGRELOR
     Route: 048
  739. BRILINTA [Concomitant]
     Active Substance: TICAGRELOR
     Dosage: 1 DF, UNKNOWN FREQ.
     Route: 065
  740. BRILINTA [Concomitant]
     Active Substance: TICAGRELOR
     Dosage: 1 DF, UNKNOWN FREQ.
     Route: 065
  741. BRILINTA [Concomitant]
     Active Substance: TICAGRELOR
     Dosage: 1 DF, UNKNOWN FREQ.
     Route: 048
  742. BRILINTA [Concomitant]
     Active Substance: TICAGRELOR
     Dosage: 2 DF, UNKNOWN FREQ.
     Route: 048
  743. BRILINTA [Concomitant]
     Active Substance: TICAGRELOR
     Dosage: 2 DF, UNKNOWN FREQ.
     Route: 065
  744. NITRO-DUR [Concomitant]
     Active Substance: NITROGLYCERIN
     Route: 065
  745. NITRO-DUR [Concomitant]
     Active Substance: NITROGLYCERIN
     Dosage: 1 DF, THRICE DAILY (EVERY 8 HOURS)
     Route: 065
  746. NITRO-DUR [Concomitant]
     Active Substance: NITROGLYCERIN
     Dosage: 1 DF, EVERY 4 DAY
     Route: 048
  747. NITRO-DUR [Concomitant]
     Active Substance: NITROGLYCERIN
     Dosage: 1 DF, EVERY 4 DAY
     Route: 048
  748. NITRO-DUR [Concomitant]
     Active Substance: NITROGLYCERIN
     Route: 065
  749. NITRO-DUR [Concomitant]
     Active Substance: NITROGLYCERIN
     Dosage: UNK UNK, UNKNOWN FREQ.
     Route: 065
  750. NITRO-DUR [Concomitant]
     Active Substance: NITROGLYCERIN
     Dosage: 1 DF, ONCE DAILY, (1 DOSAGE FORMS,1 IN 1 D)
     Route: 065
  751. NITRO-DUR [Concomitant]
     Active Substance: NITROGLYCERIN
     Route: 048
  752. NITRO-DUR [Concomitant]
     Active Substance: NITROGLYCERIN
     Dosage: UNK UNK, UNKNOWN FREQ.
     Route: 065
  753. NITRO-DUR [Concomitant]
     Active Substance: NITROGLYCERIN
     Route: 048
  754. NITRO-DUR [Concomitant]
     Active Substance: NITROGLYCERIN
     Route: 048
  755. NITRO-DUR [Concomitant]
     Active Substance: NITROGLYCERIN
     Route: 048
  756. NITRO-DUR [Concomitant]
     Active Substance: NITROGLYCERIN
     Route: 048
  757. NITRO-DUR [Concomitant]
     Active Substance: NITROGLYCERIN
     Dosage: 1 DF, UNKNOWN FREQ.
     Route: 048
  758. NITRO-DUR [Concomitant]
     Active Substance: NITROGLYCERIN
     Dosage: 1 DF, UNKNOWN FREQ. (PATCH, EXTENDED RELEASE)
     Route: 065
  759. NITRO-DUR [Concomitant]
     Active Substance: NITROGLYCERIN
     Dosage: 1 DF, UNKNOWN FREQ.
     Route: 065
  760. NITRO-DUR [Concomitant]
     Active Substance: NITROGLYCERIN
     Dosage: UNK UNK, UNKNOWN FREQ.
     Route: 065
  761. SYNTHROID [Concomitant]
     Active Substance: LEVOTHYROXINE SODIUM
     Indication: Product used for unknown indication
     Route: 065
  762. SYNTHROID [Concomitant]
     Active Substance: LEVOTHYROXINE SODIUM
     Dosage: UNK UNK, UNKNOWN FREQ.
     Route: 065
  763. SYNTHROID [Concomitant]
     Active Substance: LEVOTHYROXINE SODIUM
     Dosage: 1 DF, ONCE DAILY, NOT SPECIFIED (1 DOSAGE FORMS,1 IN 1 D)
     Route: 065
  764. SYNTHROID [Concomitant]
     Active Substance: LEVOTHYROXINE SODIUM
     Dosage: UNK UNK, UNKNOWN FREQ.
     Route: 065
  765. SYNTHROID [Concomitant]
     Active Substance: LEVOTHYROXINE SODIUM
     Dosage: 1 DF, ONCE DAILY, NOT SPECIFIED (1 DOSAGE FORMS,1 IN 1 D)
     Route: 065
  766. SYNTHROID [Concomitant]
     Active Substance: LEVOTHYROXINE SODIUM
     Dosage: 1 DF, UNKNOWN FREQ.
     Route: 065
  767. SYNTHROID [Concomitant]
     Active Substance: LEVOTHYROXINE SODIUM
     Route: 065
  768. SYNTHROID [Concomitant]
     Active Substance: LEVOTHYROXINE SODIUM
     Dosage: 1 DF, ONCE DAILY, NOT SPECIFIED (1 DOSAGE FORMS,1 IN 1 D)
     Route: 065
  769. SYNTHROID [Concomitant]
     Active Substance: LEVOTHYROXINE SODIUM
     Route: 065
  770. SYNTHROID [Concomitant]
     Active Substance: LEVOTHYROXINE SODIUM
     Dosage: 1 DF, UNKNOWN FREQ.
     Route: 065
  771. TRAZODONE [Concomitant]
     Active Substance: TRAZODONE HYDROCHLORIDE
     Indication: Product used for unknown indication
     Route: 065
  772. TRAZODONE HYDROCHLORIDE [Concomitant]
     Active Substance: TRAZODONE HYDROCHLORIDE
     Indication: Product used for unknown indication
     Route: 065
  773. TRAZODONE HYDROCHLORIDE [Concomitant]
     Active Substance: TRAZODONE HYDROCHLORIDE
     Route: 048
  774. TRAZODONE HYDROCHLORIDE [Concomitant]
     Active Substance: TRAZODONE HYDROCHLORIDE
     Dosage: 1 DF, UNKNOWN FREQ.
     Route: 065
  775. TRAZODONE HYDROCHLORIDE [Concomitant]
     Active Substance: TRAZODONE HYDROCHLORIDE
     Dosage: 1 DF, UNKNOWN FREQ.
     Route: 065
  776. ESCITALOPRAM [Concomitant]
     Active Substance: ESCITALOPRAM OXALATE
     Route: 065
  777. ESCITALOPRAM [Concomitant]
     Active Substance: ESCITALOPRAM OXALATE
     Dosage: UNK UNK, UNKNOWN FREQ.
     Route: 065
  778. ESCITALOPRAM [Concomitant]
     Active Substance: ESCITALOPRAM OXALATE
     Dosage: UNK UNK, UNKNOWN FREQ.
     Route: 065
  779. BISOPROLOL [Concomitant]
     Active Substance: BISOPROLOL
     Indication: Product used for unknown indication
     Dosage: UNK UNK, UNKNOWN FREQ.
     Route: 065
  780. BISOPROLOL [Concomitant]
     Active Substance: BISOPROLOL
     Route: 065
  781. BISOPROLOL [Concomitant]
     Active Substance: BISOPROLOL
     Route: 065
  782. BISOPROLOL [Concomitant]
     Active Substance: BISOPROLOL
     Route: 065
  783. BISOPROLOL [Concomitant]
     Active Substance: BISOPROLOL
     Dosage: 1 DF, UNKNOWN FREQ.
     Route: 048
  784. BISOPROLOL [Concomitant]
     Active Substance: BISOPROLOL
     Dosage: 1 DF, UNKNOWN FREQ.
     Route: 065
  785. ACETAMINOPHEN\CODEINE PHOSPHATE [Concomitant]
     Active Substance: ACETAMINOPHEN\CODEINE PHOSPHATE
     Indication: Product used for unknown indication
     Dosage: UNK UNK, UNKNOWN FREQ.
     Route: 048
  786. ACETAMINOPHEN\CODEINE PHOSPHATE [Concomitant]
     Active Substance: ACETAMINOPHEN\CODEINE PHOSPHATE
     Route: 065
  787. ACETAMINOPHEN\CODEINE PHOSPHATE [Concomitant]
     Active Substance: ACETAMINOPHEN\CODEINE PHOSPHATE
     Route: 048
  788. RAMIPRIL [Concomitant]
     Active Substance: RAMIPRIL
     Indication: Product used for unknown indication
     Dosage: 1 DF, 0.25 DOSAGE FORMS (1 DOSAGE FORMS,Q4D)
     Route: 065
  789. RAMIPRIL [Concomitant]
     Active Substance: RAMIPRIL
     Dosage: 1 DF, 0.25 DOSAGE FORMS (1 DOSAGE FORMS,Q4D)
     Route: 065
  790. RAMIPRIL [Concomitant]
     Active Substance: RAMIPRIL
     Route: 048
  791. RAMIPRIL [Concomitant]
     Active Substance: RAMIPRIL
     Route: 048
  792. RAMIPRIL [Concomitant]
     Active Substance: RAMIPRIL
     Dosage: 0.25 DF, 4 TIMES DAILY, (0.25 DOSAGE FORMS (1 DOSAGE FORMS,Q4D))
     Route: 065
  793. RAMIPRIL [Concomitant]
     Active Substance: RAMIPRIL
     Indication: Product used for unknown indication
     Route: 065
  794. RAMIPRIL [Concomitant]
     Active Substance: RAMIPRIL
     Route: 065
  795. RAMIPRIL [Concomitant]
     Active Substance: RAMIPRIL
     Route: 048
  796. RAMIPRIL [Concomitant]
     Active Substance: RAMIPRIL
     Route: 065
  797. RAMIPRIL [Concomitant]
     Active Substance: RAMIPRIL
     Route: 048
  798. TICAGRELOR [Concomitant]
     Active Substance: TICAGRELOR
     Indication: Product used for unknown indication
     Dosage: 1 DF, UNKNOWN FREQ.
     Route: 048
  799. TICAGRELOR [Concomitant]
     Active Substance: TICAGRELOR
     Dosage: 1 DF, UNKNOWN FREQ.
     Route: 048
  800. CICLOPIROX [CICLOPIROX OLAMINE] [Concomitant]
     Indication: Product used for unknown indication
     Dosage: UNK UNK, UNKNOWN FREQ.
     Route: 065
  801. CICLOPIROX [CICLOPIROX OLAMINE] [Concomitant]
     Dosage: UNK UNK, UNKNOWN FREQ.
     Route: 065
  802. HYDROCORTISONE [Concomitant]
     Active Substance: HYDROCORTISONE
     Indication: Product used for unknown indication
     Dosage: UNK UNK, UNKNOWN FREQ.
     Route: 065
  803. HYDROMORPHONE [Concomitant]
     Active Substance: HYDROMORPHONE
     Indication: Product used for unknown indication
     Dosage: UNK UNK, UNKNOWN FREQ.
     Route: 065
  804. METOCLOPRAMIDE HYDROCHLORIDE [Concomitant]
     Active Substance: METOCLOPRAMIDE HYDROCHLORIDE
     Route: 065
  805. METOCLOPRAMIDE HYDROCHLORIDE [Concomitant]
     Active Substance: METOCLOPRAMIDE HYDROCHLORIDE
     Dosage: 1 DF, UNKNOWN FREQ.
     Route: 065
  806. METOCLOPRAMIDE HYDROCHLORIDE [Concomitant]
     Active Substance: METOCLOPRAMIDE HYDROCHLORIDE
     Dosage: 1 DF, UNKNOWN FREQ.
     Route: 048
  807. METOCLOPRAMIDE HYDROCHLORIDE [Concomitant]
     Active Substance: METOCLOPRAMIDE HYDROCHLORIDE
     Route: 065
  808. METOCLOPRAMIDE HYDROCHLORIDE [Concomitant]
     Active Substance: METOCLOPRAMIDE HYDROCHLORIDE
     Dosage: 1 DF, UNKNOWN FREQ.
     Route: 065
  809. TESTOSTERONE [Concomitant]
     Active Substance: TESTOSTERONE
     Indication: Product used for unknown indication
     Dosage: 0.5 ML, ONCE DAILY
     Route: 065
  810. ZOPICLONE [Concomitant]
     Active Substance: ZOPICLONE
     Indication: Product used for unknown indication
     Dosage: UNK UNK, UNKNOWN FREQ.
     Route: 065
  811. ASPIRIN [Concomitant]
     Active Substance: ASPIRIN
     Indication: Prinzmetal angina
     Dosage: 1 DF, UNKNOWN FREQ.
     Route: 048
  812. DILTIAZEM HYDROCHLORIDE [Concomitant]
     Active Substance: DILTIAZEM HYDROCHLORIDE
     Indication: Product used for unknown indication
     Route: 065
  813. DILTIAZEM HYDROCHLORIDE [Concomitant]
     Active Substance: DILTIAZEM HYDROCHLORIDE
     Dosage: 1 DF, QD
     Route: 048
  814. DELATESTRYL [Concomitant]
     Active Substance: TESTOSTERONE ENANTHATE
     Indication: Product used for unknown indication
     Dosage: 0.5 ML, EVERY 2 WEEKS, 0.035 MILLILITRE(S) (0.5 MILLILITRE(S)), EVERY 2 WEEKS
     Route: 065
  815. DELATESTRYL [Concomitant]
     Active Substance: TESTOSTERONE ENANTHATE
     Dosage: 0.5 ML, ONCE DAILY
     Route: 030
  816. DELATESTRYL [Concomitant]
     Active Substance: TESTOSTERONE ENANTHATE
     Dosage: 0.5 ML, EVERY 2 WEEKS, 0.035 MILLILITRE(S) (0.5 MILLILITRE(S)), EVERY 2 WEEKS
     Route: 065
  817. DELATESTRYL [Concomitant]
     Active Substance: TESTOSTERONE ENANTHATE
     Dosage: 0.5 ML, ONCE DAILY
     Route: 030
  818. DELATESTRYL [Concomitant]
     Active Substance: TESTOSTERONE ENANTHATE
     Dosage: 0.5 ML, EVERY 2 WEEKS, 0.035 MILLILITRE(S) (0.5 MILLILITRE(S)), EVERY 2 WEEKS
     Route: 065
  819. DELATESTRYL [Concomitant]
     Active Substance: TESTOSTERONE ENANTHATE
     Dosage: 0.5 ML, EVERY 2 WEEKS
     Route: 065
  820. DELATESTRYL [Concomitant]
     Active Substance: TESTOSTERONE ENANTHATE
     Dosage: 0.5 ML, ONCE DAILY
     Route: 030
  821. DELATESTRYL [Concomitant]
     Active Substance: TESTOSTERONE ENANTHATE
     Dosage: 0.5 ML, EVERY 2 WEEKS
     Route: 065
  822. DELATESTRYL [Concomitant]
     Active Substance: TESTOSTERONE ENANTHATE
     Route: 065
  823. METOCLOPRAMIDE [Concomitant]
     Active Substance: METOCLOPRAMIDE
     Dosage: UNK UNK, UNKNOWN FREQ.
     Route: 065
  824. HYDROCORTISONE BUTYRATE [Concomitant]
     Active Substance: HYDROCORTISONE BUTYRATE
     Indication: Product used for unknown indication
     Route: 061
  825. HYDROCORTISONE BUTYRATE [Concomitant]
     Active Substance: HYDROCORTISONE BUTYRATE
     Route: 061
  826. BISOPROLOL FUMARATE [Concomitant]
     Active Substance: BISOPROLOL FUMARATE
     Indication: Product used for unknown indication
     Route: 065
  827. ASPIRIN [Concomitant]
     Active Substance: ASPIRIN
     Indication: Prinzmetal angina
     Route: 065
  828. ASPIRIN [Concomitant]
     Active Substance: ASPIRIN
     Route: 048
  829. ASPIRIN [Concomitant]
     Active Substance: ASPIRIN
     Route: 065
  830. CICLOPIROX OLAMINE [Concomitant]
     Active Substance: CICLOPIROX OLAMINE
     Indication: Product used for unknown indication
     Route: 065
  831. CICLOPIROX OLAMINE [Concomitant]
     Active Substance: CICLOPIROX OLAMINE
     Route: 048
  832. CICLOPIROX OLAMINE [Concomitant]
     Active Substance: CICLOPIROX OLAMINE
     Route: 065
  833. CICLOPIROX OLAMINE [Concomitant]
     Active Substance: CICLOPIROX OLAMINE
     Route: 048
  834. CICLOPIROX OLAMINE [Concomitant]
     Active Substance: CICLOPIROX OLAMINE
     Dosage: UNK UNK, UNKNOWN FREQ.
     Route: 065
  835. CICLOPIROX OLAMINE [Concomitant]
     Active Substance: CICLOPIROX OLAMINE
     Route: 048
  836. CICLOPIROX OLAMINE [Concomitant]
     Active Substance: CICLOPIROX OLAMINE
     Route: 065
  837. AMLODIPINE [Concomitant]
     Active Substance: AMLODIPINE BESYLATE
     Indication: Product used for unknown indication
     Route: 065
  838. AMLODIPINE [Concomitant]
     Active Substance: AMLODIPINE BESYLATE
     Dosage: 1 DF, QD
     Route: 065
  839. BISOPROLOL FUMARATE [Concomitant]
     Active Substance: BISOPROLOL FUMARATE
     Indication: Product used for unknown indication
     Dosage: 1 DF, QD
     Route: 065
  840. BISOPROLOL FUMARATE [Concomitant]
     Active Substance: BISOPROLOL FUMARATE
     Route: 065
  841. BISOPROLOL FUMARATE [Concomitant]
     Active Substance: BISOPROLOL FUMARATE
     Route: 065
  842. RIVOTRIL [Concomitant]
     Active Substance: CLONAZEPAM
     Indication: Product used for unknown indication
     Dosage: 1 DF, TID
     Route: 065
  843. RIVOTRIL [Concomitant]
     Active Substance: CLONAZEPAM
     Dosage: 0.5 MG, UNKNOWN FREQ.
     Route: 065
  844. RIVOTRIL [Concomitant]
     Active Substance: CLONAZEPAM
     Dosage: 1 DF, QD
     Route: 048
  845. RIVOTRIL [Concomitant]
     Active Substance: CLONAZEPAM
     Dosage: 1 DF, THRICE DAILY (EVERY 8 HOURS)
     Route: 048
  846. RIVOTRIL [Concomitant]
     Active Substance: CLONAZEPAM
     Dosage: 1 DF, TID
     Route: 048
  847. RIVOTRIL [Concomitant]
     Active Substance: CLONAZEPAM
     Dosage: 1 MG, UNKNOWN FREQ.
     Route: 065
  848. CODEINE PHOSPHATE [Concomitant]
     Active Substance: CODEINE PHOSPHATE
     Indication: Product used for unknown indication
     Dosage: UNK UNK, UNKNOWN FREQ.
     Route: 065
  849. HYDROCORTISONE [Concomitant]
     Active Substance: HYDROCORTISONE
     Indication: Product used for unknown indication
     Dosage: 1 DF, QD
     Route: 065
  850. HYDROCORTISONE [Concomitant]
     Active Substance: HYDROCORTISONE
     Dosage: 1 DF, QD
     Route: 061
  851. HYDROCORTISONE [Concomitant]
     Active Substance: HYDROCORTISONE
     Dosage: 1 DF, UNKNOWN FREQ.
     Route: 065
  852. ACETAMINOPHEN\CODEINE PHOSPHATE [Concomitant]
     Active Substance: ACETAMINOPHEN\CODEINE PHOSPHATE
     Indication: Product used for unknown indication
     Dosage: UNK UNK, Q4D
     Route: 065
  853. ACETAMINOPHEN\CODEINE PHOSPHATE [Concomitant]
     Active Substance: ACETAMINOPHEN\CODEINE PHOSPHATE
     Dosage: UNK UNK, UNKNOWN FREQ.
     Route: 065

REACTIONS (3)
  - Drug ineffective [Recovered/Resolved]
  - Device malfunction [Recovered/Resolved]
  - Device dislocation [Recovered/Resolved]
